FAERS Safety Report 20941883 (Version 4)
Quarter: 2022Q3

REPORT INFORMATION
  Report Type: Report from Study
  Country: GB (occurrence: GB)
  Receive Date: 20220610
  Receipt Date: 20220923
  Transmission Date: 20221027
  Serious: Yes (Death, Hospitalization, Other)
  Sender: FDA-Public Use
  Company Number: GB-CELGENE-GBR-20191004799

PATIENT
  Age: 74 Year
  Sex: Male

DRUGS (680)
  1. REVLIMID [Suspect]
     Active Substance: LENALIDOMIDE
     Indication: Plasma cell myeloma
     Route: 048
  2. REVLIMID [Suspect]
     Active Substance: LENALIDOMIDE
     Dosage: 25 MG, QD
     Route: 048
     Dates: start: 20181210, end: 20181231
  3. REVLIMID [Suspect]
     Active Substance: LENALIDOMIDE
     Route: 048
     Dates: start: 20181112, end: 20181202
  4. REVLIMID [Suspect]
     Active Substance: LENALIDOMIDE
     Route: 048
     Dates: start: 20191112, end: 20191202
  5. REVLIMID [Suspect]
     Active Substance: LENALIDOMIDE
     Dosage: 300 MG, ONCE A WEEK
     Route: 048
     Dates: start: 20191213, end: 20191231
  6. REVLIMID [Suspect]
     Active Substance: LENALIDOMIDE
     Dosage: 25 MG, QD
     Route: 048
     Dates: start: 20181015, end: 20181104
  7. REVLIMID [Suspect]
     Active Substance: LENALIDOMIDE
     Dosage: 25 MG, QD
     Route: 048
     Dates: start: 20190906, end: 20191231
  8. REVLIMID [Suspect]
     Active Substance: LENALIDOMIDE
     Dosage: 25 MG, QD
     Route: 048
     Dates: start: 20180821, end: 20180909
  9. REVLIMID [Suspect]
     Active Substance: LENALIDOMIDE
     Dosage: 25 MG, QD
     Route: 048
     Dates: start: 20190906, end: 20191010
  10. REVLIMID [Suspect]
     Active Substance: LENALIDOMIDE
     Dosage: 25 MILLIGRAM, QD
     Route: 048
     Dates: start: 20191213, end: 20191231
  11. REVLIMID [Suspect]
     Active Substance: LENALIDOMIDE
     Dosage: 25 MG, QD
     Route: 048
     Dates: start: 20190809, end: 20190829
  12. REVLIMID [Suspect]
     Active Substance: LENALIDOMIDE
     Dosage: 20 MG, 1 DOSE WEEKLY
     Route: 048
     Dates: start: 20180614, end: 20190830
  13. REVLIMID [Suspect]
     Active Substance: LENALIDOMIDE
     Dosage: 25 MILLIGRAM, OD
     Route: 048
     Dates: start: 20190906, end: 20191231
  14. REVLIMID [Suspect]
     Active Substance: LENALIDOMIDE
     Dosage: 20 MG, 1 DOSE WEEKLY
     Route: 048
     Dates: start: 20180821, end: 20190101
  15. REVLIMID [Suspect]
     Active Substance: LENALIDOMIDE
     Dosage: 25 MG, QD
     Route: 048
     Dates: start: 20181210, end: 20181231
  16. REVLIMID [Suspect]
     Active Substance: LENALIDOMIDE
     Dosage: 4 MG, 1 DOSE WEEKLY
     Route: 048
     Dates: start: 20190615, end: 20190622
  17. REVLIMID [Suspect]
     Active Substance: LENALIDOMIDE
     Dosage: 25 MILLIGRAM, OD
     Route: 048
     Dates: start: 20190809, end: 20190829
  18. REVLIMID [Suspect]
     Active Substance: LENALIDOMIDE
     Dosage: 25 MG, QD
     Route: 048
     Dates: start: 20191210
  19. REVLIMID [Suspect]
     Active Substance: LENALIDOMIDE
     Dosage: 25 MG, QD
     Route: 048
     Dates: start: 20190614, end: 20190704
  20. REVLIMID [Suspect]
     Active Substance: LENALIDOMIDE
     Dosage: 25 MG, QD
     Route: 048
     Dates: start: 20180917, end: 20181007
  21. REVLIMID [Suspect]
     Active Substance: LENALIDOMIDE
     Dosage: 20 MG, 1 DOSE WEEKLY
     Route: 048
     Dates: start: 20190906, end: 20191228
  22. REVLIMID [Suspect]
     Active Substance: LENALIDOMIDE
     Dosage: UNK
     Route: 065
     Dates: start: 20191231
  23. REVLIMID [Suspect]
     Active Substance: LENALIDOMIDE
     Dosage: 25 MILLIGRAM, OD
     Route: 048
     Dates: start: 20191213, end: 20191231
  24. REVLIMID [Suspect]
     Active Substance: LENALIDOMIDE
     Dosage: 4 MG, WEEKLY
     Route: 048
     Dates: start: 20190629
  25. REVLIMID [Suspect]
     Active Substance: LENALIDOMIDE
     Dosage: 25 MILLIGRAM, OD
     Route: 048
     Dates: start: 20180917, end: 20181007
  26. REVLIMID [Suspect]
     Active Substance: LENALIDOMIDE
     Dosage: 25 MILLIGRAM, OD
     Route: 048
     Dates: start: 20181015, end: 20181104
  27. REVLIMID [Suspect]
     Active Substance: LENALIDOMIDE
     Dosage: 25 MG, QD
     Route: 048
     Dates: start: 20190712, end: 20190801
  28. REVLIMID [Suspect]
     Active Substance: LENALIDOMIDE
     Route: 048
  29. REVLIMID [Suspect]
     Active Substance: LENALIDOMIDE
     Dosage: 4325 MILLIGRAM;
     Route: 048
  30. REVLIMID [Suspect]
     Active Substance: LENALIDOMIDE
     Route: 048
  31. REVLIMID [Suspect]
     Active Substance: LENALIDOMIDE
     Dosage: 25 MILLIGRAM, QD
     Route: 048
     Dates: start: 20190123
  32. REVLIMID [Suspect]
     Active Substance: LENALIDOMIDE
     Dosage: 25 MILLIGRAM, QD
     Route: 048
     Dates: start: 20191112, end: 20191202
  33. REVLIMID [Suspect]
     Active Substance: LENALIDOMIDE
     Route: 048
  34. REVLIMID [Suspect]
     Active Substance: LENALIDOMIDE
     Dosage: 25 MILLIGRAM, QD
     Route: 048
     Dates: start: 20191210
  35. REVLIMID [Suspect]
     Active Substance: LENALIDOMIDE
     Dosage: UNK
     Route: 065
  36. REVLIMID [Suspect]
     Active Substance: LENALIDOMIDE
     Dosage: UNK
     Route: 048
  37. REVLIMID [Suspect]
     Active Substance: LENALIDOMIDE
     Dosage: 25 MILLIGRAM, OD
     Route: 048
     Dates: start: 20181210, end: 20181231
  38. REVLIMID [Suspect]
     Active Substance: LENALIDOMIDE
     Dosage: UNK
     Route: 048
  39. REVLIMID [Suspect]
     Active Substance: LENALIDOMIDE
     Dosage: UNK
     Route: 065
  40. REVLIMID [Suspect]
     Active Substance: LENALIDOMIDE
     Dosage: UNK
     Route: 048
  41. REVLIMID [Suspect]
     Active Substance: LENALIDOMIDE
     Dosage: UNK
     Route: 048
  42. REVLIMID [Suspect]
     Active Substance: LENALIDOMIDE
     Dosage: UNK
     Route: 065
  43. REVLIMID [Suspect]
     Active Substance: LENALIDOMIDE
     Dosage: UNK
     Route: 048
  44. REVLIMID [Suspect]
     Active Substance: LENALIDOMIDE
     Dosage: UNK
     Route: 065
  45. REVLIMID [Suspect]
     Active Substance: LENALIDOMIDE
     Dosage: UNK
     Route: 048
  46. REVLIMID [Suspect]
     Active Substance: LENALIDOMIDE
     Dosage: UNK
     Route: 048
  47. REVLIMID [Suspect]
     Active Substance: LENALIDOMIDE
     Dosage: UNK
     Route: 048
  48. REVLIMID [Suspect]
     Active Substance: LENALIDOMIDE
     Dosage: UNK
     Route: 048
  49. REVLIMID [Suspect]
     Active Substance: LENALIDOMIDE
     Dosage: UNK
     Route: 048
  50. REVLIMID [Suspect]
     Active Substance: LENALIDOMIDE
     Dosage: UNK
     Route: 048
  51. REVLIMID [Suspect]
     Active Substance: LENALIDOMIDE
     Dosage: UNK
     Route: 048
  52. REVLIMID [Suspect]
     Active Substance: LENALIDOMIDE
     Dosage: UNK
     Route: 065
  53. REVLIMID [Suspect]
     Active Substance: LENALIDOMIDE
     Dosage: UNK
     Route: 065
  54. REVLIMID [Suspect]
     Active Substance: LENALIDOMIDE
     Dosage: UNK
     Route: 048
  55. REVLIMID [Suspect]
     Active Substance: LENALIDOMIDE
     Dosage: UNK
     Route: 048
  56. REVLIMID [Suspect]
     Active Substance: LENALIDOMIDE
     Dosage: UNK
     Route: 065
  57. REVLIMID [Suspect]
     Active Substance: LENALIDOMIDE
     Dosage: UNK
     Route: 065
  58. REVLIMID [Suspect]
     Active Substance: LENALIDOMIDE
     Dosage: UNK
     Route: 048
  59. REVLIMID [Suspect]
     Active Substance: LENALIDOMIDE
     Dosage: UNK
     Route: 048
  60. REVLIMID [Suspect]
     Active Substance: LENALIDOMIDE
     Dosage: UNK
     Route: 048
  61. REVLIMID [Suspect]
     Active Substance: LENALIDOMIDE
     Dosage: UNK
     Route: 048
  62. REVLIMID [Suspect]
     Active Substance: LENALIDOMIDE
     Dosage: UNK
     Route: 048
  63. REVLIMID [Suspect]
     Active Substance: LENALIDOMIDE
     Dosage: UNK
     Route: 048
  64. REVLIMID [Suspect]
     Active Substance: LENALIDOMIDE
     Dosage: UNK
     Route: 048
  65. REVLIMID [Suspect]
     Active Substance: LENALIDOMIDE
     Dosage: UNK
     Route: 065
  66. REVLIMID [Suspect]
     Active Substance: LENALIDOMIDE
     Dosage: UNK
     Route: 065
  67. REVLIMID [Suspect]
     Active Substance: LENALIDOMIDE
     Dosage: UNK
     Route: 048
  68. REVLIMID [Suspect]
     Active Substance: LENALIDOMIDE
     Dosage: UNK
     Route: 048
  69. REVLIMID [Suspect]
     Active Substance: LENALIDOMIDE
     Dosage: UNK
     Route: 048
  70. REVLIMID [Suspect]
     Active Substance: LENALIDOMIDE
     Dosage: UNK;
     Route: 048
  71. REVLIMID [Suspect]
     Active Substance: LENALIDOMIDE
     Dosage: UNK; ;
     Route: 048
  72. REVLIMID [Suspect]
     Active Substance: LENALIDOMIDE
     Dosage: UNK; ;
     Route: 048
  73. REVLIMID [Suspect]
     Active Substance: LENALIDOMIDE
     Dosage: UNK; ;
     Route: 048
  74. REVLIMID [Suspect]
     Active Substance: LENALIDOMIDE
     Dosage: UNK
     Route: 065
  75. REVLIMID [Suspect]
     Active Substance: LENALIDOMIDE
     Dosage: UNK
     Route: 048
  76. REVLIMID [Suspect]
     Active Substance: LENALIDOMIDE
     Dosage: UNK
     Route: 048
  77. REVLIMID [Suspect]
     Active Substance: LENALIDOMIDE
     Dosage: UNK
     Route: 048
  78. REVLIMID [Suspect]
     Active Substance: LENALIDOMIDE
     Dosage: UNK
     Route: 048
  79. REVLIMID [Suspect]
     Active Substance: LENALIDOMIDE
     Dosage: UNK
     Route: 065
  80. REVLIMID [Suspect]
     Active Substance: LENALIDOMIDE
     Dosage: 4325 MILLIGRAM
  81. REVLIMID [Suspect]
     Active Substance: LENALIDOMIDE
     Dosage: UNK
  82. REVLIMID [Suspect]
     Active Substance: LENALIDOMIDE
     Dosage: UNK
  83. REVLIMID [Suspect]
     Active Substance: LENALIDOMIDE
     Dosage: 15 MILLIGRAM, QD
     Route: 065
  84. REVLIMID [Suspect]
     Active Substance: LENALIDOMIDE
     Dosage: UNK; ;
     Route: 048
  85. REVLIMID [Suspect]
     Active Substance: LENALIDOMIDE
     Dosage: UNK; ;
     Route: 048
  86. REVLIMID [Suspect]
     Active Substance: LENALIDOMIDE
     Dosage: UNK; ;
     Route: 048
  87. REVLIMID [Suspect]
     Active Substance: LENALIDOMIDE
     Dosage: 15 MILLIGRAM, QD
     Route: 065
  88. REVLIMID [Suspect]
     Active Substance: LENALIDOMIDE
     Dosage: UNK; ;
     Route: 048
  89. REVLIMID [Suspect]
     Active Substance: LENALIDOMIDE
     Dosage: UNK; ;
     Route: 048
  90. AZACITIDINE [Suspect]
     Active Substance: AZACITIDINE
     Indication: Product used for unknown indication
     Route: 065
  91. DEXAMETHASONE [Suspect]
     Active Substance: DEXAMETHASONE
     Indication: Plasma cell myeloma
     Dosage: 20 MG, 1 DOSE WEEKLY
     Route: 048
     Dates: start: 20181113, end: 20181203
  92. DEXAMETHASONE [Suspect]
     Active Substance: DEXAMETHASONE
     Route: 048
     Dates: start: 20190809
  93. DEXAMETHASONE [Suspect]
     Active Substance: DEXAMETHASONE
     Dosage: 20 MG, 1 DOSE WEEKLY
     Route: 048
     Dates: start: 20190123
  94. DEXAMETHASONE [Suspect]
     Active Substance: DEXAMETHASONE
     Route: 048
     Dates: start: 20181010
  95. DEXAMETHASONE [Suspect]
     Active Substance: DEXAMETHASONE
     Route: 048
     Dates: start: 20181210
  96. DEXAMETHASONE [Suspect]
     Active Substance: DEXAMETHASONE
     Dosage: 20 MILLIGRAM, 1/WEEK
     Route: 048
     Dates: start: 20180821, end: 20190101
  97. DEXAMETHASONE [Suspect]
     Active Substance: DEXAMETHASONE
     Dosage: 20 MILLIGRAM, 1/WEEK
     Route: 048
     Dates: start: 20190614, end: 20190830
  98. DEXAMETHASONE [Suspect]
     Active Substance: DEXAMETHASONE
     Dosage: UNK
     Route: 048
     Dates: start: 20190809
  99. DEXAMETHASONE [Suspect]
     Active Substance: DEXAMETHASONE
     Dosage: 20 MILLIGRAM, 1/WEEK
     Route: 048
     Dates: start: 20190906, end: 20191228
  100. DEXAMETHASONE [Suspect]
     Active Substance: DEXAMETHASONE
     Dosage: 20 MG, WEEKLY
     Route: 048
     Dates: start: 20190906, end: 20191228
  101. DEXAMETHASONE [Suspect]
     Active Substance: DEXAMETHASONE
     Dosage: 20 MG, 1 DOSE WEEKLY
     Route: 048
     Dates: start: 20181211, end: 20190101
  102. DEXAMETHASONE [Suspect]
     Active Substance: DEXAMETHASONE
     Dosage: UNK
     Route: 048
     Dates: start: 20180917, end: 20181007
  103. DEXAMETHASONE [Suspect]
     Active Substance: DEXAMETHASONE
     Dosage: UNK
     Route: 048
     Dates: start: 20181015
  104. DEXAMETHASONE [Suspect]
     Active Substance: DEXAMETHASONE
     Dosage: 20 MG, 1 DOSE WEEKLY
     Route: 048
     Dates: start: 20181016, end: 20181105
  105. DEXAMETHASONE [Suspect]
     Active Substance: DEXAMETHASONE
     Dosage: 20 MILLIGRAM, 1/WEEK
     Route: 048
     Dates: start: 20191213, end: 20191228
  106. DEXAMETHASONE [Suspect]
     Active Substance: DEXAMETHASONE
     Dosage: 20 MILLIGRAM, QW
     Route: 048
     Dates: start: 20191006, end: 20191010
  107. DEXAMETHASONE [Suspect]
     Active Substance: DEXAMETHASONE
     Dosage: UNK
     Route: 065
     Dates: start: 20190829
  108. DEXAMETHASONE [Suspect]
     Active Substance: DEXAMETHASONE
     Dosage: UNK
     Route: 048
     Dates: start: 20181112
  109. DEXAMETHASONE [Suspect]
     Active Substance: DEXAMETHASONE
     Dosage: UNK; ;
     Route: 048
  110. DEXAMETHASONE [Suspect]
     Active Substance: DEXAMETHASONE
     Dosage: UNK
     Route: 048
  111. DEXAMETHASONE [Suspect]
     Active Substance: DEXAMETHASONE
     Dosage: UNK
     Route: 048
  112. DEXAMETHASONE [Suspect]
     Active Substance: DEXAMETHASONE
     Dosage: 20 MILLIGRAM
     Route: 048
     Dates: start: 20180917, end: 20181007
  113. DEXAMETHASONE [Suspect]
     Active Substance: DEXAMETHASONE
     Dosage: UNK
     Route: 065
  114. DEXAMETHASONE [Suspect]
     Active Substance: DEXAMETHASONE
     Dosage: UNK
     Route: 048
  115. DEXAMETHASONE [Suspect]
     Active Substance: DEXAMETHASONE
     Dosage: UNK
     Route: 065
     Dates: start: 20181015
  116. DEXAMETHASONE [Suspect]
     Active Substance: DEXAMETHASONE
     Dosage: 20 MILLIGRAM, QW
     Route: 048
     Dates: start: 20191228
  117. DEXAMETHASONE [Suspect]
     Active Substance: DEXAMETHASONE
     Dosage: UNK
     Route: 048
     Dates: start: 20181210
  118. DEXAMETHASONE [Suspect]
     Active Substance: DEXAMETHASONE
     Dosage: UNK
     Route: 048
     Dates: start: 20181015
  119. DEXAMETHASONE [Suspect]
     Active Substance: DEXAMETHASONE
     Dosage: UNK
     Route: 065
     Dates: start: 20181112
  120. DEXAMETHASONE [Suspect]
     Active Substance: DEXAMETHASONE
     Dosage: UNK
     Route: 065
  121. DEXAMETHASONE [Suspect]
     Active Substance: DEXAMETHASONE
     Dosage: UNK
     Route: 048
  122. DEXAMETHASONE [Suspect]
     Active Substance: DEXAMETHASONE
     Dosage: UNK
     Route: 065
  123. DEXAMETHASONE [Suspect]
     Active Substance: DEXAMETHASONE
     Dosage: 20 MILLIGRAM, 1/WEEK
     Dates: start: 20190906, end: 20191010
  124. DEXAMETHASONE [Suspect]
     Active Substance: DEXAMETHASONE
     Dosage: 20 MILLIGRAM, QW
     Route: 048
     Dates: start: 20190906, end: 20191228
  125. DEXAMETHASONE [Suspect]
     Active Substance: DEXAMETHASONE
     Dosage: UNK
     Route: 048
  126. DEXAMETHASONE [Suspect]
     Active Substance: DEXAMETHASONE
     Dosage: UNK
     Route: 065
  127. DEXAMETHASONE [Suspect]
     Active Substance: DEXAMETHASONE
     Dosage: UNK
     Route: 048
  128. DEXAMETHASONE [Suspect]
     Active Substance: DEXAMETHASONE
     Dosage: UNK
     Route: 065
  129. DEXAMETHASONE [Suspect]
     Active Substance: DEXAMETHASONE
     Dosage: UNK
     Route: 048
  130. DEXAMETHASONE [Suspect]
     Active Substance: DEXAMETHASONE
     Dosage: UNK
     Route: 048
  131. DEXAMETHASONE [Suspect]
     Active Substance: DEXAMETHASONE
     Route: 065
  132. DEXAMETHASONE [Suspect]
     Active Substance: DEXAMETHASONE
     Route: 048
  133. DEXAMETHASONE [Suspect]
     Active Substance: DEXAMETHASONE
     Dosage: UNK
     Route: 065
  134. DEXAMETHASONE [Suspect]
     Active Substance: DEXAMETHASONE
     Route: 048
  135. DEXAMETHASONE [Suspect]
     Active Substance: DEXAMETHASONE
     Route: 065
  136. DEXAMETHASONE [Suspect]
     Active Substance: DEXAMETHASONE
     Route: 065
  137. DEXAMETHASONE [Suspect]
     Active Substance: DEXAMETHASONE
     Route: 065
  138. DEXAMETHASONE [Suspect]
     Active Substance: DEXAMETHASONE
     Route: 048
  139. NINLARO [Suspect]
     Active Substance: IXAZOMIB CITRATE
     Indication: Plasma cell myeloma
     Dosage: 20 MILLIGRAM, 1/WEEK
     Route: 048
     Dates: start: 20191213, end: 20191228
  140. NINLARO [Suspect]
     Active Substance: IXAZOMIB CITRATE
     Dosage: 2.3 MILLIGRAM, 1/WEEK
     Route: 065
  141. NINLARO [Suspect]
     Active Substance: IXAZOMIB CITRATE
     Dosage: 4 MILLIGRAM;
     Route: 065
  142. NINLARO [Suspect]
     Active Substance: IXAZOMIB CITRATE
     Dosage: 2.3 MILLIGRAM, 1/WEEK
     Route: 065
  143. NINLARO [Suspect]
     Active Substance: IXAZOMIB CITRATE
     Dosage: 4 MILLIGRAM;
     Route: 048
  144. CYCLOPHOSPHAMIDE [Suspect]
     Active Substance: CYCLOPHOSPHAMIDE
     Indication: Plasma cell myeloma
     Route: 048
     Dates: start: 20181015
  145. CYCLOPHOSPHAMIDE [Suspect]
     Active Substance: CYCLOPHOSPHAMIDE
     Dosage: 300 MG, QW
     Route: 048
     Dates: start: 20191213, end: 20191228
  146. CYCLOPHOSPHAMIDE [Suspect]
     Active Substance: CYCLOPHOSPHAMIDE
     Dosage: 300 MG, QD
     Route: 048
     Dates: start: 20190907, end: 20191010
  147. CYCLOPHOSPHAMIDE [Suspect]
     Active Substance: CYCLOPHOSPHAMIDE
     Dosage: 11100 MG
     Route: 048
     Dates: start: 20191213
  148. CYCLOPHOSPHAMIDE [Suspect]
     Active Substance: CYCLOPHOSPHAMIDE
     Dosage: UNK
     Route: 048
     Dates: start: 2019, end: 20191213
  149. CYCLOPHOSPHAMIDE [Suspect]
     Active Substance: CYCLOPHOSPHAMIDE
     Dosage: 36.59 MG
     Route: 048
     Dates: end: 20191213
  150. CYCLOPHOSPHAMIDE [Suspect]
     Active Substance: CYCLOPHOSPHAMIDE
     Dosage: 300 MG, QD
     Route: 048
     Dates: start: 20190907, end: 20190907
  151. CYCLOPHOSPHAMIDE [Suspect]
     Active Substance: CYCLOPHOSPHAMIDE
     Dosage: 7800 MG
     Route: 048
     Dates: start: 20191213
  152. CYCLOPHOSPHAMIDE [Suspect]
     Active Substance: CYCLOPHOSPHAMIDE
     Dosage: 7800 MG
     Route: 048
     Dates: start: 2019, end: 20191213
  153. CYCLOPHOSPHAMIDE [Suspect]
     Active Substance: CYCLOPHOSPHAMIDE
     Dosage: 300 MG, QD
     Route: 048
     Dates: start: 20191010
  154. CYCLOPHOSPHAMIDE [Suspect]
     Active Substance: CYCLOPHOSPHAMIDE
     Dosage: 300 MG, QD
     Route: 048
     Dates: end: 2019
  155. CYCLOPHOSPHAMIDE [Suspect]
     Active Substance: CYCLOPHOSPHAMIDE
     Dosage: 300 MG, QD
     Route: 048
     Dates: start: 2019, end: 20191213
  156. CYCLOPHOSPHAMIDE [Suspect]
     Active Substance: CYCLOPHOSPHAMIDE
     Dosage: 300 MG, QD
     Route: 048
     Dates: start: 20191213, end: 20191226
  157. CYCLOPHOSPHAMIDE [Suspect]
     Active Substance: CYCLOPHOSPHAMIDE
     Dosage: 300 MG, QD
     Route: 048
  158. CYCLOPHOSPHAMIDE [Suspect]
     Active Substance: CYCLOPHOSPHAMIDE
     Dosage: 36.59 MG
     Route: 048
     Dates: end: 2019
  159. CYCLOPHOSPHAMIDE [Suspect]
     Active Substance: CYCLOPHOSPHAMIDE
     Dosage: 4 MG, QW
     Route: 048
     Dates: start: 20191213, end: 20191226
  160. CYCLOPHOSPHAMIDE [Suspect]
     Active Substance: CYCLOPHOSPHAMIDE
     Dosage: 300 MILLIGRAM, QD
     Route: 048
  161. CYCLOPHOSPHAMIDE [Suspect]
     Active Substance: CYCLOPHOSPHAMIDE
     Dosage: 11100 MILLIGRAM
     Route: 048
     Dates: start: 20191213
  162. CYCLOPHOSPHAMIDE [Suspect]
     Active Substance: CYCLOPHOSPHAMIDE
     Dosage: 4 MG, WEEKLY
     Route: 048
     Dates: start: 20191213, end: 20191226
  163. CYCLOPHOSPHAMIDE [Suspect]
     Active Substance: CYCLOPHOSPHAMIDE
     Dosage: UNK
     Route: 048
     Dates: end: 2019
  164. CYCLOPHOSPHAMIDE [Suspect]
     Active Substance: CYCLOPHOSPHAMIDE
     Dosage: 300 MILLIGRAM, QD
     Route: 048
  165. CYCLOPHOSPHAMIDE [Suspect]
     Active Substance: CYCLOPHOSPHAMIDE
     Dosage: 11100 MILLIGRAM
     Route: 048
     Dates: end: 20191213
  166. CYCLOPHOSPHAMIDE [Suspect]
     Active Substance: CYCLOPHOSPHAMIDE
     Route: 048
     Dates: end: 2019
  167. CYCLOPHOSPHAMIDE [Suspect]
     Active Substance: CYCLOPHOSPHAMIDE
     Dosage: 300 MILLIGRAM, OD
     Route: 048
     Dates: end: 20191213
  168. CYCLOPHOSPHAMIDE [Suspect]
     Active Substance: CYCLOPHOSPHAMIDE
     Route: 048
     Dates: end: 20191213
  169. CYCLOPHOSPHAMIDE [Suspect]
     Active Substance: CYCLOPHOSPHAMIDE
     Dosage: 300 MILLIGRAM, QD
     Route: 048
     Dates: start: 20190907, end: 20190907
  170. CYCLOPHOSPHAMIDE [Suspect]
     Active Substance: CYCLOPHOSPHAMIDE
     Dosage: 300 MG, QD
     Route: 048
  171. VENETOCLAX [Suspect]
     Active Substance: VENETOCLAX
     Indication: Product used for unknown indication
     Route: 065
  172. MEGACE [Concomitant]
     Active Substance: MEGESTROL ACETATE
     Indication: Malnutrition
     Dosage: 15 ML, QD (7.5 MILLILITER, BID)
     Route: 048
     Dates: start: 20191011
  173. MEGACE [Concomitant]
     Active Substance: MEGESTROL ACETATE
     Dosage: 7.5 ML, QD
     Route: 048
     Dates: start: 20191011
  174. MEGACE [Concomitant]
     Active Substance: MEGESTROL ACETATE
     Dosage: 15 ML, QD
     Route: 048
     Dates: start: 20191019
  175. PIPERACILLIN SODIUM\TAZOBACTAM SODIUM [Concomitant]
     Active Substance: PIPERACILLIN SODIUM\TAZOBACTAM SODIUM
     Indication: Product used for unknown indication
     Dosage: 4.5 GRAM, QD
     Route: 042
     Dates: start: 20190106, end: 20190110
  176. INNOHEP [Concomitant]
     Active Substance: TINZAPARIN SODIUM
     Indication: Prophylaxis
     Dosage: 10000 IU (INTERNATIONAL UNIT)
     Route: 058
     Dates: start: 20190110
  177. VALACYCLOVIR HYDROCHLORIDE [Concomitant]
     Active Substance: VALACYCLOVIR HYDROCHLORIDE
     Indication: Prophylaxis
     Dosage: 500 MILLIGRAM
     Route: 048
     Dates: start: 20190817
  178. VALACYCLOVIR HYDROCHLORIDE [Concomitant]
     Active Substance: VALACYCLOVIR HYDROCHLORIDE
     Dosage: 500 MILLIGRAM, OD
     Route: 048
  179. BUDESONIDE [Concomitant]
     Active Substance: BUDESONIDE
     Indication: Chronic obstructive pulmonary disease
     Dosage: 1 MILLIGRAM
     Route: 048
     Dates: start: 20200107
  180. AUGMENTIN [Concomitant]
     Active Substance: AMOXICILLIN\CLAVULANATE POTASSIUM
     Indication: Product used for unknown indication
     Route: 048
     Dates: start: 20191003, end: 20191006
  181. AUGMENTIN [Concomitant]
     Active Substance: AMOXICILLIN\CLAVULANATE POTASSIUM
     Dosage: 1.2 G
     Route: 042
     Dates: start: 20191002, end: 20191003
  182. AUGMENTIN [Concomitant]
     Active Substance: AMOXICILLIN\CLAVULANATE POTASSIUM
     Dosage: 1.2 GRAM;
     Route: 042
     Dates: start: 20190102, end: 20190103
  183. AUGMENTIN [Concomitant]
     Active Substance: AMOXICILLIN\CLAVULANATE POTASSIUM
     Dosage: 625 MILLIGRAM;
     Route: 048
     Dates: start: 20190103, end: 20190106
  184. CARBOHYDRATES\FATTY ACIDS\MINERALS\PROTEIN\VITAMINS [Concomitant]
     Active Substance: CARBOHYDRATES\FATTY ACIDS\MINERALS\PROTEIN\VITAMINS
     Indication: Malnutrition
     Dosage: 2 DOSAGE FORM, QD
     Route: 048
     Dates: start: 20190103, end: 20191011
  185. CARBOHYDRATES\FATTY ACIDS\MINERALS\PROTEIN\VITAMINS [Concomitant]
     Active Substance: CARBOHYDRATES\FATTY ACIDS\MINERALS\PROTEIN\VITAMINS
     Route: 048
     Dates: start: 20190102, end: 20191029
  186. DOXYCYCLINE [Concomitant]
     Active Substance: DOXYCYCLINE
     Indication: Product used for unknown indication
     Dosage: 400 MG, QD
     Route: 048
     Dates: start: 20191009, end: 20191114
  187. ZINC SULFATE [Concomitant]
     Active Substance: ZINC SULFATE
     Indication: Malnutrition
     Dosage: UNK, BID;
     Route: 048
     Dates: start: 20190103, end: 20191011
  188. ZINC SULFATE [Concomitant]
     Active Substance: ZINC SULFATE
     Dosage: UNK
     Route: 065
  189. ZINC SULFATE [Concomitant]
     Active Substance: ZINC SULFATE
     Dosage: UNK
     Route: 065
  190. ZINC SULFATE [Concomitant]
     Active Substance: ZINC SULFATE
     Dosage: UNK
     Route: 065
  191. CHOLECALCIFEROL [Concomitant]
     Active Substance: CHOLECALCIFEROL
     Indication: Bone disorder
     Dosage: UNK, QD
     Route: 048
     Dates: start: 20191016, end: 20191029
  192. CHOLECALCIFEROL [Concomitant]
     Active Substance: CHOLECALCIFEROL
     Indication: Prophylaxis
     Dosage: UNK, QD
     Route: 048
     Dates: start: 20190212, end: 20191015
  193. CHOLECALCIFEROL [Concomitant]
     Active Substance: CHOLECALCIFEROL
     Indication: Malnutrition
     Dosage: UNK
     Route: 065
  194. CHOLECALCIFEROL [Concomitant]
     Active Substance: CHOLECALCIFEROL
     Dosage: UNK, BID
     Route: 048
     Dates: start: 20190103, end: 20191011
  195. CHOLECALCIFEROL [Concomitant]
     Active Substance: CHOLECALCIFEROL
     Dosage: UNK, BID
     Route: 048
     Dates: start: 20190212, end: 20191015
  196. CHOLECALCIFEROL [Concomitant]
     Active Substance: CHOLECALCIFEROL
     Dosage: UNK UNK, BID
     Route: 048
     Dates: start: 20190103, end: 20191011
  197. CHOLECALCIFEROL [Concomitant]
     Active Substance: CHOLECALCIFEROL
     Dosage: UNK
     Route: 065
  198. CHOLECALCIFEROL [Concomitant]
     Active Substance: CHOLECALCIFEROL
     Dosage: UNK
     Route: 065
  199. CHOLECALCIFEROL [Concomitant]
     Active Substance: CHOLECALCIFEROL
     Dosage: UNK
     Route: 065
  200. CHOLECALCIFEROL [Concomitant]
     Active Substance: CHOLECALCIFEROL
     Dosage: UNK
     Route: 065
  201. CHOLECALCIFEROL [Concomitant]
     Active Substance: CHOLECALCIFEROL
     Dosage: UNK
     Route: 065
  202. CHOLECALCIFEROL [Concomitant]
     Active Substance: CHOLECALCIFEROL
     Dosage: UNK
     Route: 065
  203. CHOLECALCIFEROL [Concomitant]
     Active Substance: CHOLECALCIFEROL
     Dosage: UNK
     Route: 065
  204. CHOLECALCIFEROL [Concomitant]
     Active Substance: CHOLECALCIFEROL
     Dosage: UNK
     Route: 065
  205. CHOLECALCIFEROL [Concomitant]
     Active Substance: CHOLECALCIFEROL
     Dosage: UNK
     Route: 065
  206. VITAMIN D NOS [Concomitant]
     Active Substance: VITAMIN D NOS
     Indication: Prophylaxis
     Dosage: UNK, QD
     Route: 048
     Dates: start: 20190104
  207. VITAMIN D NOS [Concomitant]
     Active Substance: VITAMIN D NOS
     Indication: Malnutrition
     Dosage: UNK, QD
     Route: 048
     Dates: start: 20190102, end: 20190129
  208. VITAMIN D NOS [Concomitant]
     Active Substance: VITAMIN D NOS
     Dosage: UNK, BID
     Route: 048
     Dates: start: 20190104
  209. VITAMIN D NOS [Concomitant]
     Active Substance: VITAMIN D NOS
     Dosage: UNK; ;
     Route: 048
     Dates: start: 20190103, end: 20191011
  210. VITAMIN D NOS [Concomitant]
     Active Substance: VITAMIN D NOS
     Dosage: UNK UNK, QD, (UNK UNK, BID)
     Route: 065
     Dates: start: 20190103, end: 20191011
  211. VITAMIN D NOS [Concomitant]
     Active Substance: VITAMIN D NOS
     Dosage: UNK, QD
     Dates: start: 20190102, end: 20190129
  212. VITAMIN D NOS [Concomitant]
     Active Substance: VITAMIN D NOS
     Dosage: UNK, QD, (UNK, BID)
     Dates: start: 20190102, end: 20190129
  213. VITAMIN D NOS [Concomitant]
     Active Substance: VITAMIN D NOS
     Dosage: UNK, BID
     Dates: start: 20190103, end: 20191011
  214. INFLUENZA VIRUS VACCINE [Concomitant]
     Active Substance: INFLUENZA VIRUS VACCINE
     Indication: Prophylaxis
     Dosage: UNK UNK, QD;
     Route: 065
     Dates: start: 20191112, end: 20191112
  215. INFLUENZA VIRUS VACCINE [Concomitant]
     Active Substance: INFLUENZA VIRUS VACCINE
     Dosage: 1 DOSAGE FORM (1 AMPULE), OD,
     Route: 065
     Dates: start: 20191112, end: 20191112
  216. INFLUENZA VIRUS VACCINE [Concomitant]
     Active Substance: INFLUENZA VIRUS VACCINE
     Dosage: UNK
     Route: 065
  217. INFLUENZA VIRUS VACCINE [Concomitant]
     Active Substance: INFLUENZA VIRUS VACCINE
     Dosage: UNK
     Route: 065
  218. INFLUENZA VIRUS VACCINE [Concomitant]
     Active Substance: INFLUENZA VIRUS VACCINE
     Dosage: UNK
     Route: 065
  219. INFLUENZA VIRUS VACCINE [Concomitant]
     Active Substance: INFLUENZA VIRUS VACCINE
     Dosage: UNK
     Route: 065
  220. SODIUM FLUORIDE [Concomitant]
     Active Substance: SODIUM FLUORIDE
     Indication: Malnutrition
     Dosage: 90 MILLILITER, QD
     Route: 048
     Dates: start: 20190103
  221. SODIUM FLUORIDE [Concomitant]
     Active Substance: SODIUM FLUORIDE
     Dosage: 90 ML, QD
     Route: 048
     Dates: start: 20190103
  222. SODIUM FLUORIDE [Concomitant]
     Active Substance: SODIUM FLUORIDE
     Dosage: UNK
     Route: 065
  223. SODIUM FLUORIDE [Concomitant]
     Active Substance: SODIUM FLUORIDE
     Dosage: UNK
     Route: 065
  224. SODIUM FLUORIDE [Concomitant]
     Active Substance: SODIUM FLUORIDE
     Dosage: UNK
     Route: 065
  225. SODIUM FLUORIDE [Concomitant]
     Active Substance: SODIUM FLUORIDE
     Dosage: UNK
     Route: 065
  226. SODIUM FLUORIDE [Concomitant]
     Active Substance: SODIUM FLUORIDE
     Dosage: UNK
     Route: 065
  227. SODIUM FLUORIDE [Concomitant]
     Active Substance: SODIUM FLUORIDE
     Dosage: UNK
     Route: 065
  228. SODIUM FLUORIDE [Concomitant]
     Active Substance: SODIUM FLUORIDE
     Dosage: UNK
     Route: 065
  229. SODIUM FLUORIDE [Concomitant]
     Active Substance: SODIUM FLUORIDE
     Dosage: UNK
     Route: 065
  230. SODIUM FLUORIDE [Concomitant]
     Active Substance: SODIUM FLUORIDE
     Dosage: UNK
     Route: 065
  231. SODIUM FLUORIDE [Concomitant]
     Active Substance: SODIUM FLUORIDE
     Dosage: UNK
     Route: 065
  232. SODIUM FLUORIDE [Concomitant]
     Active Substance: SODIUM FLUORIDE
     Dosage: UNK
     Route: 065
  233. SODIUM FLUORIDE [Concomitant]
     Active Substance: SODIUM FLUORIDE
     Dosage: UNK
     Route: 065
  234. SODIUM FLUORIDE [Concomitant]
     Active Substance: SODIUM FLUORIDE
     Dosage: UNK
     Route: 065
  235. SODIUM FLUORIDE [Concomitant]
     Active Substance: SODIUM FLUORIDE
     Dosage: UNK
     Route: 065
  236. ENOXAPARIN SODIUM [Concomitant]
     Active Substance: ENOXAPARIN SODIUM
     Indication: Product used for unknown indication
     Dosage: 40 MILLIGRAM;
     Route: 048
     Dates: start: 20190103, end: 20190109
  237. ZOLMITRIPTAN [Concomitant]
     Active Substance: ZOLMITRIPTAN
     Indication: Product used for unknown indication
     Dosage: UNK
     Route: 048
  238. MANGANESE SULFATE [Concomitant]
     Active Substance: MANGANESE SULFATE
     Indication: Malnutrition
     Dosage: UNK UNK, QD, (UNK UNK, BID)
     Route: 048
     Dates: start: 20190103, end: 20191011
  239. MANGANESE SULFATE [Concomitant]
     Active Substance: MANGANESE SULFATE
     Dosage: UNK, BID
     Route: 048
     Dates: start: 20190103, end: 20191011
  240. MANGANESE SULFATE [Concomitant]
     Active Substance: MANGANESE SULFATE
     Dosage: UNK
  241. FOLIC ACID [Concomitant]
     Active Substance: FOLIC ACID
     Indication: Anaemia
     Dosage: 5 MG, QD
     Route: 048
  242. FOLIC ACID [Concomitant]
     Active Substance: FOLIC ACID
     Dosage: 5 MILLIGRAM, QD
     Route: 048
  243. FOLIC ACID [Concomitant]
     Active Substance: FOLIC ACID
     Dosage: 5 MILLIGRAM, QD
     Route: 048
  244. FOLIC ACID [Concomitant]
     Active Substance: FOLIC ACID
     Dosage: 5 MILLIGRAM
  245. FOLIC ACID [Concomitant]
     Active Substance: FOLIC ACID
     Dosage: 5 MILLIGRAM
  246. FOLIC ACID [Concomitant]
     Active Substance: FOLIC ACID
     Dosage: 5 MILLIGRAM, QD
  247. FOLIC ACID [Concomitant]
     Active Substance: FOLIC ACID
     Dosage: 5 MILLIGRAM, QD
  248. FOLIC ACID [Concomitant]
     Active Substance: FOLIC ACID
     Dosage: 5 MILLIGRAM
     Route: 048
  249. FOLIC ACID [Concomitant]
     Active Substance: FOLIC ACID
     Dosage: 5 MILLIGRAM, QD
     Route: 048
  250. FOLIC ACID [Concomitant]
     Active Substance: FOLIC ACID
     Dosage: 5 MILLIGRAM
     Route: 048
  251. FOLIC ACID [Concomitant]
     Active Substance: FOLIC ACID
     Dosage: 5 MILLIGRAM
     Route: 048
  252. FOLIC ACID [Concomitant]
     Active Substance: FOLIC ACID
     Dosage: 5 MILLIGRAM, QD
     Route: 048
  253. FOLIC ACID [Concomitant]
     Active Substance: FOLIC ACID
     Dosage: 5 MILLIGRAM, QD
     Route: 048
  254. FOLIC ACID [Concomitant]
     Active Substance: FOLIC ACID
     Dosage: 5 MILLIGRAM, QD
     Route: 048
  255. PANTOPRAZOLE [Concomitant]
     Active Substance: PANTOPRAZOLE
     Indication: Prophylaxis
     Dosage: 20 MILLIGRAM, QD
     Route: 048
     Dates: start: 20190102, end: 20190102
  256. PANTOPRAZOLE [Concomitant]
     Active Substance: PANTOPRAZOLE
     Dosage: 80 MILLIGRAM, QD
     Route: 048
     Dates: start: 20191016
  257. PANTOPRAZOLE [Concomitant]
     Active Substance: PANTOPRAZOLE
     Dosage: UNK
     Route: 048
     Dates: start: 20191020, end: 20191020
  258. PANTOPRAZOLE [Concomitant]
     Active Substance: PANTOPRAZOLE
     Dosage: 20 MILLIGRAM, QD
     Route: 048
     Dates: start: 20190102, end: 20191015
  259. PANTOPRAZOLE [Concomitant]
     Active Substance: PANTOPRAZOLE
     Dosage: 80 MILLIGRAM, QD
     Route: 048
     Dates: start: 20191016
  260. TRIMETHOPRIM [Concomitant]
     Active Substance: TRIMETHOPRIM
     Indication: Antifungal prophylaxis
     Dosage: 20 MILLILITER, QD
     Route: 048
     Dates: start: 20190102, end: 20191015
  261. TRIMETHOPRIM [Concomitant]
     Active Substance: TRIMETHOPRIM
     Dosage: 480 MILLIGRAM, QD
     Route: 048
     Dates: start: 20191011
  262. TRIMETHOPRIM [Concomitant]
     Active Substance: TRIMETHOPRIM
     Dosage: 10 MILLILITER;
     Route: 048
     Dates: start: 20191011
  263. TRIMETHOPRIM [Concomitant]
     Active Substance: TRIMETHOPRIM
     Dosage: UNK
     Route: 065
     Dates: start: 20191011
  264. TRIMETHOPRIM [Concomitant]
     Active Substance: TRIMETHOPRIM
     Dosage: 480 MG, QD
  265. TRIMETHOPRIM [Concomitant]
     Active Substance: TRIMETHOPRIM
     Dosage: 480 MILLIGRAM, QD
     Route: 048
     Dates: start: 20180817, end: 20191015
  266. TRIMETHOPRIM [Concomitant]
     Active Substance: TRIMETHOPRIM
     Dosage: 480 MILLIGRAM, QD
     Route: 048
  267. TRIMETHOPRIM [Concomitant]
     Active Substance: TRIMETHOPRIM
     Dosage: 480 MILLIGRAM, QD
     Route: 048
  268. TRIMETHOPRIM [Concomitant]
     Active Substance: TRIMETHOPRIM
     Dosage: 480 MILLIGRAM, QD
     Route: 048
  269. TRIMETHOPRIM [Concomitant]
     Active Substance: TRIMETHOPRIM
     Dosage: 480 MG, QD
     Route: 048
  270. TRIMETHOPRIM [Concomitant]
     Active Substance: TRIMETHOPRIM
     Dosage: 480 MG, QD
     Route: 048
  271. TRIMETHOPRIM [Concomitant]
     Active Substance: TRIMETHOPRIM
     Dosage: 480 MG, QD
     Route: 048
  272. TRIMETHOPRIM [Concomitant]
     Active Substance: TRIMETHOPRIM
     Dosage: 480 MG, QD
     Route: 048
  273. TRIMETHOPRIM [Concomitant]
     Active Substance: TRIMETHOPRIM
     Dosage: 480 MG, QD
     Route: 048
  274. TRIMETHOPRIM [Concomitant]
     Active Substance: TRIMETHOPRIM
     Dosage: 480 MG, QD
     Route: 048
  275. TRIMETHOPRIM [Concomitant]
     Active Substance: TRIMETHOPRIM
     Dosage: 480 MG, QD
     Route: 048
  276. TRIMETHOPRIM [Concomitant]
     Active Substance: TRIMETHOPRIM
     Dosage: 480 MILLIGRAM, QD
     Route: 048
  277. TRIMETHOPRIM [Concomitant]
     Active Substance: TRIMETHOPRIM
     Dosage: 480 MG, QD
     Route: 048
  278. TRIMETHOPRIM [Concomitant]
     Active Substance: TRIMETHOPRIM
     Dosage: 480 MG, QD
     Route: 048
  279. TRIMETHOPRIM [Concomitant]
     Active Substance: TRIMETHOPRIM
     Dosage: 480 MILLIGRAM, QD
     Route: 048
  280. TRIMETHOPRIM [Concomitant]
     Active Substance: TRIMETHOPRIM
     Dosage: 480 MG, QD
     Route: 048
  281. TRIMETHOPRIM [Concomitant]
     Active Substance: TRIMETHOPRIM
     Dosage: 480 MG, QD
     Route: 048
  282. TRIMETHOPRIM [Concomitant]
     Active Substance: TRIMETHOPRIM
     Dosage: 480 MILLIGRAM, QD
     Route: 048
  283. TRIMETHOPRIM [Concomitant]
     Active Substance: TRIMETHOPRIM
     Dosage: 480 MILLIGRAM, QD
     Route: 048
  284. ASPIRIN [Concomitant]
     Active Substance: ASPIRIN
     Indication: Prophylaxis
     Dosage: 75 MG, QD
     Route: 048
  285. ASPIRIN [Concomitant]
     Active Substance: ASPIRIN
     Indication: Anaemia
     Dosage: 75 MILLIGRAM, QD
     Route: 048
  286. ASPIRIN [Concomitant]
     Active Substance: ASPIRIN
     Dosage: UNK
     Route: 065
  287. ASPIRIN [Concomitant]
     Active Substance: ASPIRIN
     Dosage: 75 MILLIGRAM, QD
     Route: 048
  288. ASPIRIN [Concomitant]
     Active Substance: ASPIRIN
     Dosage: UNK
     Route: 065
  289. ASPIRIN [Concomitant]
     Active Substance: ASPIRIN
     Dosage: 75 MILLIGRAM, QD
     Route: 048
  290. ASPIRIN [Concomitant]
     Active Substance: ASPIRIN
     Dosage: 75 MG, QD
     Route: 048
  291. ASPIRIN [Concomitant]
     Active Substance: ASPIRIN
     Dosage: 75 MG, QD
     Route: 048
  292. ASPIRIN [Concomitant]
     Active Substance: ASPIRIN
     Dosage: 75 MG, QD
     Route: 048
  293. ASPIRIN [Concomitant]
     Active Substance: ASPIRIN
     Dosage: 75 MG, QD
     Route: 048
  294. ASPIRIN [Concomitant]
     Active Substance: ASPIRIN
     Dosage: 75 MILLIGRAM, QD
     Route: 048
  295. ASPIRIN [Concomitant]
     Active Substance: ASPIRIN
     Dosage: UNK
     Route: 065
  296. ASPIRIN [Concomitant]
     Active Substance: ASPIRIN
     Dosage: 75 MG, QD
     Route: 048
  297. ASPIRIN [Concomitant]
     Active Substance: ASPIRIN
     Dosage: 75 MG, QD
     Route: 048
  298. ASPIRIN [Concomitant]
     Active Substance: ASPIRIN
     Dosage: UNK
     Route: 065
  299. ASPIRIN [Concomitant]
     Active Substance: ASPIRIN
     Dosage: 75 MILLIGRAM, QD
     Route: 048
  300. ASPIRIN [Concomitant]
     Active Substance: ASPIRIN
     Dosage: 75 MG, QD
     Route: 048
  301. ASPIRIN [Concomitant]
     Active Substance: ASPIRIN
     Dosage: 75 MG, QD
     Route: 048
  302. ASPIRIN [Concomitant]
     Active Substance: ASPIRIN
     Dosage: UNK
     Route: 065
  303. ASPIRIN [Concomitant]
     Active Substance: ASPIRIN
     Dosage: 75 MILLIGRAM, QD
     Route: 048
  304. ASPIRIN [Concomitant]
     Active Substance: ASPIRIN
     Dosage: UNK
     Route: 065
  305. ASPIRIN [Concomitant]
     Active Substance: ASPIRIN
     Dosage: 75 MILLIGRAM, QD
     Route: 048
  306. CALCITONIN [Concomitant]
     Active Substance: CALCITONIN
     Indication: Malnutrition
     Dosage: UNK UNK, BID;
     Route: 048
     Dates: start: 20190130, end: 20191011
  307. CALCITONIN [Concomitant]
     Active Substance: CALCITONIN
     Dosage: UNK, BID
     Route: 048
     Dates: start: 20190103, end: 20191011
  308. CALCITONIN [Concomitant]
     Active Substance: CALCITONIN
     Dosage: UNK; ;
     Route: 065
  309. CALCITONIN [Concomitant]
     Active Substance: CALCITONIN
     Dosage: UNK
     Route: 065
  310. CALCITONIN [Concomitant]
     Active Substance: CALCITONIN
     Dosage: UNK
     Route: 065
  311. CALCITONIN [Concomitant]
     Active Substance: CALCITONIN
     Dosage: UNK
     Route: 065
  312. CALCITONIN [Concomitant]
     Active Substance: CALCITONIN
     Dosage: UNK
     Route: 065
  313. CALCITONIN [Concomitant]
     Active Substance: CALCITONIN
     Dosage: UNK
     Route: 065
  314. CALCITONIN [Concomitant]
     Active Substance: CALCITONIN
     Dosage: UNK
     Route: 065
  315. CALCITONIN [Concomitant]
     Active Substance: CALCITONIN
     Dosage: UNK
     Route: 065
  316. CALCITONIN [Concomitant]
     Active Substance: CALCITONIN
     Dosage: UNK; ;
     Route: 065
  317. CALCIUM ACETATE [Concomitant]
     Active Substance: CALCIUM ACETATE
     Indication: Malnutrition
     Dosage: UNK, BID
     Route: 048
     Dates: start: 20191003, end: 20191011
  318. CALCIUM ACETATE [Concomitant]
     Active Substance: CALCIUM ACETATE
     Dosage: UNK
     Route: 048
     Dates: start: 20191020, end: 20191029
  319. CALCIUM CARBONATE [Concomitant]
     Active Substance: CALCIUM CARBONATE
     Indication: Malnutrition
     Dosage: UNK, BID
     Route: 048
     Dates: start: 20190103, end: 20191011
  320. COTRIMOXAZOLE [Concomitant]
     Active Substance: SULFAMETHOXAZOLE\TRIMETHOPRIM
     Indication: Antifungal prophylaxis
     Dosage: 480 MG, OD
     Route: 048
     Dates: start: 20180817, end: 20191015
  321. COTRIMOXAZOLE [Concomitant]
     Active Substance: SULFAMETHOXAZOLE\TRIMETHOPRIM
     Indication: Antifungal prophylaxis
     Dosage: 480 MG, QD
     Route: 048
     Dates: start: 20180817, end: 20191015
  322. COTRIMOXAZOLE [Concomitant]
     Active Substance: SULFAMETHOXAZOLE\TRIMETHOPRIM
     Dosage: 480 MG, QD
     Route: 048
     Dates: start: 20180817, end: 20191015
  323. COTRIMOXAZOLE [Concomitant]
     Active Substance: SULFAMETHOXAZOLE\TRIMETHOPRIM
     Dosage: UNK; ;
     Route: 065
  324. AMLODIPINE [Concomitant]
     Active Substance: AMLODIPINE BESYLATE
     Indication: Hypertension
     Dosage: 10 MG, QD
     Route: 048
  325. AMLODIPINE [Concomitant]
     Active Substance: AMLODIPINE BESYLATE
     Dosage: 10 MG, QD
     Route: 048
     Dates: end: 20191204
  326. AMLODIPINE [Concomitant]
     Active Substance: AMLODIPINE BESYLATE
     Dosage: 10 MILLIGRAM, QD
     Route: 048
     Dates: start: 20191204, end: 20191204
  327. AMLODIPINE [Concomitant]
     Active Substance: AMLODIPINE BESYLATE
     Dosage: 10 MG, OD
     Route: 048
     Dates: start: 20191204, end: 20191204
  328. AMLODIPINE [Concomitant]
     Active Substance: AMLODIPINE BESYLATE
     Dosage: 10 MILLIGRAM, QD
     Route: 048
  329. AMLODIPINE [Concomitant]
     Active Substance: AMLODIPINE BESYLATE
     Dosage: 10 MILLIGRAM, QD
     Route: 048
  330. AMLODIPINE [Concomitant]
     Active Substance: AMLODIPINE BESYLATE
     Dosage: 10 MILLIGRAM, QD
     Route: 048
  331. AMLODIPINE [Concomitant]
     Active Substance: AMLODIPINE BESYLATE
     Dosage: 10 MILLIGRAM, QD
     Route: 048
  332. MAGNESIUM SULFATE [Concomitant]
     Active Substance: MAGNESIUM SULFATE
     Indication: Malnutrition
     Dosage: UNK UNK, BID;
     Route: 048
     Dates: start: 20190103, end: 20191011
  333. MAGNESIUM SULFATE [Concomitant]
     Active Substance: MAGNESIUM SULFATE
     Dosage: UNK
     Route: 065
  334. MAGNESIUM SULFATE [Concomitant]
     Active Substance: MAGNESIUM SULFATE
     Dosage: UNK; ;
     Route: 065
  335. MAGNESIUM SULFATE [Concomitant]
     Active Substance: MAGNESIUM SULFATE
     Dosage: UNK; ;
     Route: 065
  336. MAGNESIUM SULFATE [Concomitant]
     Active Substance: MAGNESIUM SULFATE
     Dosage: UNK
  337. MAGNESIUM SULFATE [Concomitant]
     Active Substance: MAGNESIUM SULFATE
     Dosage: UNK
     Route: 065
  338. MAGNESIUM SULFATE [Concomitant]
     Active Substance: MAGNESIUM SULFATE
     Dosage: UNK, BID
     Route: 048
     Dates: start: 20190103, end: 20191011
  339. MAGNESIUM SULFATE [Concomitant]
     Active Substance: MAGNESIUM SULFATE
     Dosage: UNK; ;
     Route: 065
  340. MAGNESIUM SULFATE [Concomitant]
     Active Substance: MAGNESIUM SULFATE
     Dosage: UNK; ;
     Route: 065
  341. CUPRIC SULFATE ANHYDROUS [Concomitant]
     Active Substance: CUPRIC SULFATE ANHYDROUS
     Indication: Malnutrition
     Dosage: UNK UNK, BID;
     Route: 048
     Dates: start: 20190103, end: 20191011
  342. CUPRIC SULFATE ANHYDROUS [Concomitant]
     Active Substance: CUPRIC SULFATE ANHYDROUS
     Dosage: UNK, BID
     Route: 048
     Dates: start: 20190103, end: 20191011
  343. CUPRIC SULFATE ANHYDROUS [Concomitant]
     Active Substance: CUPRIC SULFATE ANHYDROUS
     Dosage: UNK
  344. CUPRIC SULFATE ANHYDROUS [Concomitant]
     Active Substance: CUPRIC SULFATE ANHYDROUS
     Dosage: UNK
     Route: 065
  345. CUPRIC SULFATE ANHYDROUS [Concomitant]
     Active Substance: CUPRIC SULFATE ANHYDROUS
     Dosage: UNK
     Route: 065
  346. CUPRIC SULFATE ANHYDROUS [Concomitant]
     Active Substance: CUPRIC SULFATE ANHYDROUS
     Dosage: UNK
     Route: 065
  347. CUPRIC SULFATE ANHYDROUS [Concomitant]
     Active Substance: CUPRIC SULFATE ANHYDROUS
     Dosage: UNK
     Route: 065
  348. CUPRIC SULFATE ANHYDROUS [Concomitant]
     Active Substance: CUPRIC SULFATE ANHYDROUS
     Dosage: UNK
     Route: 065
  349. CUPRIC SULFATE ANHYDROUS [Concomitant]
     Active Substance: CUPRIC SULFATE ANHYDROUS
     Dosage: UNK
     Route: 065
  350. CUPRIC SULFATE ANHYDROUS [Concomitant]
     Active Substance: CUPRIC SULFATE ANHYDROUS
     Dosage: UNK
     Route: 065
  351. CUPRIC SULFATE ANHYDROUS [Concomitant]
     Active Substance: CUPRIC SULFATE ANHYDROUS
     Dosage: UNK
     Route: 065
  352. CUPRIC SULFATE ANHYDROUS [Concomitant]
     Active Substance: CUPRIC SULFATE ANHYDROUS
     Dosage: UNK
     Route: 065
  353. CUPRIC SULFATE ANHYDROUS [Concomitant]
     Active Substance: CUPRIC SULFATE ANHYDROUS
     Dosage: UNK
     Route: 065
  354. CUPRIC SULFATE ANHYDROUS [Concomitant]
     Active Substance: CUPRIC SULFATE ANHYDROUS
     Dosage: UNK
     Route: 065
  355. CUPRIC SULFATE ANHYDROUS [Concomitant]
     Active Substance: CUPRIC SULFATE ANHYDROUS
     Dosage: UNK
     Route: 065
  356. CUPRIC SULFATE ANHYDROUS [Concomitant]
     Active Substance: CUPRIC SULFATE ANHYDROUS
     Dosage: UNK
     Route: 065
  357. MYCOSTATIN [Concomitant]
     Active Substance: NYSTATIN
     Indication: Prophylaxis
     Dosage: 9 MILLILITER, QD
     Route: 048
     Dates: start: 20191116, end: 20191220
  358. MYCOSTATIN [Concomitant]
     Active Substance: NYSTATIN
     Indication: Tongue coated
     Dosage: 420 ML
     Route: 048
  359. MYCOSTATIN [Concomitant]
     Active Substance: NYSTATIN
     Dosage: UNK
     Route: 065
  360. MYCOSTATIN [Concomitant]
     Active Substance: NYSTATIN
     Dosage: 3 MILLILITER, QD
     Route: 048
     Dates: start: 20191116, end: 20191220
  361. MYCOSTATIN [Concomitant]
     Active Substance: NYSTATIN
     Dosage: 3 ML, QD
     Route: 048
     Dates: start: 20191116, end: 20191223
  362. MYCOSTATIN [Concomitant]
     Active Substance: NYSTATIN
     Dosage: UNK; ;
     Route: 048
     Dates: start: 20190104
  363. MYCOSTATIN [Concomitant]
     Active Substance: NYSTATIN
     Dosage: 3 ML, QD (1ML TID)
     Route: 048
     Dates: start: 20191116, end: 20191220
  364. MYCOSTATIN [Concomitant]
     Active Substance: NYSTATIN
     Dosage: UNK
     Route: 048
     Dates: start: 20190104
  365. CALCIUM\CHOLECALCIFEROL [Concomitant]
     Active Substance: CALCIUM\CHOLECALCIFEROL
     Indication: Bone disorder
     Dosage: UNK, QD
     Route: 065
     Dates: start: 20191016, end: 20191029
  366. CALCIUM\CHOLECALCIFEROL [Concomitant]
     Active Substance: CALCIUM\CHOLECALCIFEROL
     Indication: Prophylaxis
     Dosage: 2 DOSAGE FORM, OD, 2 TABLET
     Route: 048
     Dates: start: 20191016, end: 20191029
  367. CALCIUM\CHOLECALCIFEROL [Concomitant]
     Active Substance: CALCIUM\CHOLECALCIFEROL
     Dosage: 6 DOSAGE FORM, QD (2 TABLET)
     Route: 048
     Dates: start: 20190103, end: 20190211
  368. CALCIUM\CHOLECALCIFEROL [Concomitant]
     Active Substance: CALCIUM\CHOLECALCIFEROL
     Dosage: UNK, QD;
     Route: 048
     Dates: start: 20190104, end: 20190211
  369. CALCIUM\CHOLECALCIFEROL [Concomitant]
     Active Substance: CALCIUM\CHOLECALCIFEROL
     Dosage: 6 DOSAGE FORM, QD (2 DOSAGE FORM, TID, 2 TABLET)
     Route: 048
     Dates: start: 20190103, end: 20190211
  370. CALCIUM\CHOLECALCIFEROL [Concomitant]
     Active Substance: CALCIUM\CHOLECALCIFEROL
     Dosage: 2 DOSAGE FORM, BID (2 TABLET)
     Route: 048
     Dates: start: 20190212, end: 20191015
  371. CALCIUM\CHOLECALCIFEROL [Concomitant]
     Active Substance: CALCIUM\CHOLECALCIFEROL
     Dosage: 4 DOSAGE FORM, BID)
     Route: 048
     Dates: start: 20190103, end: 20191011
  372. CALCIUM\CHOLECALCIFEROL [Concomitant]
     Active Substance: CALCIUM\CHOLECALCIFEROL
     Dosage: UNK UNK, QD;
     Route: 048
     Dates: start: 201901
  373. CALCIUM\CHOLECALCIFEROL [Concomitant]
     Active Substance: CALCIUM\CHOLECALCIFEROL
     Dosage: 4 DOSAGE FORM, QD (2 DOSAGE FORM, BID, 2 TABLET)
     Route: 048
     Dates: start: 20190212, end: 20191015
  374. CALCIUM\CHOLECALCIFEROL [Concomitant]
     Active Substance: CALCIUM\CHOLECALCIFEROL
     Dosage: 8 DOSAGE FORM, QD, (4 DOSAGE FORM, BID)
     Route: 048
     Dates: start: 20190103, end: 20191011
  375. CALCIUM\CHOLECALCIFEROL [Concomitant]
     Active Substance: CALCIUM\CHOLECALCIFEROL
     Dosage: 2 DOSAGE FORM, BID
     Route: 048
     Dates: start: 20190103, end: 20190211
  376. CALCIUM\CHOLECALCIFEROL [Concomitant]
     Active Substance: CALCIUM\CHOLECALCIFEROL
     Dosage: 6 DOSAGE FORM, QD (2 TABLET)
     Route: 048
     Dates: start: 20190103, end: 20190211
  377. CALCIUM\CHOLECALCIFEROL [Concomitant]
     Active Substance: CALCIUM\CHOLECALCIFEROL
     Dosage: 2 DOSAGE FORM, BID
     Route: 048
     Dates: start: 20190103, end: 20191011
  378. CALCIUM\CHOLECALCIFEROL [Concomitant]
     Active Substance: CALCIUM\CHOLECALCIFEROL
     Dosage: 6 DOSAGE FORM, TID, 2 TABLET
     Route: 048
     Dates: start: 20190103, end: 20190211
  379. CALCIUM\CHOLECALCIFEROL [Concomitant]
     Active Substance: CALCIUM\CHOLECALCIFEROL
     Dosage: 6 DOSAGE FORM, QD (2 DOSAGE FORM, TID, 2 TABLET)
     Route: 048
     Dates: start: 20190103, end: 20190211
  380. CALCIUM\CHOLECALCIFEROL [Concomitant]
     Active Substance: CALCIUM\CHOLECALCIFEROL
     Dosage: 18 DOSAGE FORM, QD
     Route: 048
     Dates: start: 20190103, end: 20190211
  381. CALCIUM\CHOLECALCIFEROL [Concomitant]
     Active Substance: CALCIUM\CHOLECALCIFEROL
     Dosage: 4 DOSAGE FORM, BID
     Route: 048
     Dates: start: 20190103, end: 20191011
  382. CALCIUM\CHOLECALCIFEROL [Concomitant]
     Active Substance: CALCIUM\CHOLECALCIFEROL
     Dosage: 2 DOSAGE FORM, OD, 2 TABLET
     Route: 048
     Dates: start: 20191016, end: 20191029
  383. CALCIUM\CHOLECALCIFEROL [Concomitant]
     Active Substance: CALCIUM\CHOLECALCIFEROL
     Indication: Malnutrition
     Dosage: UNK UNK, QD
     Dates: start: 20191020, end: 20191029
  384. CALCIUM\CHOLECALCIFEROL [Concomitant]
     Active Substance: CALCIUM\CHOLECALCIFEROL
     Dosage: UNK UNK, QD
     Dates: start: 20191003, end: 20191011
  385. CALCIUM\CHOLECALCIFEROL [Concomitant]
     Active Substance: CALCIUM\CHOLECALCIFEROL
     Dosage: UNK
     Dates: start: 20191020
  386. SULFAMETHOXAZOLE\TRIMETHOPRIM [Concomitant]
     Active Substance: SULFAMETHOXAZOLE\TRIMETHOPRIM
     Indication: Prophylaxis
     Dosage: 20 MILLILITER, QD, 20 ML, QD
     Route: 048
     Dates: start: 20190102, end: 20191015
  387. SULFAMETHOXAZOLE\TRIMETHOPRIM [Concomitant]
     Active Substance: SULFAMETHOXAZOLE\TRIMETHOPRIM
     Dosage: 10 MILLILITER, QD, 10 ML, QD
     Route: 048
     Dates: start: 20191011
  388. CLARITHROMYCIN [Concomitant]
     Active Substance: CLARITHROMYCIN
     Indication: Product used for unknown indication
     Dosage: 500 MG
     Route: 048
     Dates: start: 20191006, end: 20191009
  389. CLARITHROMYCIN [Concomitant]
     Active Substance: CLARITHROMYCIN
     Dosage: 500 MILLIGRAM
     Route: 048
     Dates: start: 20190106, end: 20190109
  390. CHLORHEXIDINE [Concomitant]
     Active Substance: CHLORHEXIDINE
     Indication: Tongue coated
     Dosage: 30 MILLILITER, QD
     Route: 048
     Dates: start: 20191116, end: 20191220
  391. ZOLEDRONIC ACID [Concomitant]
     Active Substance: ZOLEDRONIC ACID
     Indication: Prophylaxis
     Dosage: 4 MILLIGRAM;
     Route: 041
     Dates: start: 20181106
  392. ZOLEDRONIC ACID [Concomitant]
     Active Substance: ZOLEDRONIC ACID
     Dosage: 4 MILLIGRAM, OD
     Route: 042
     Dates: start: 20181106
  393. ZOLEDRONIC ACID [Concomitant]
     Active Substance: ZOLEDRONIC ACID
     Dosage: 4 MILLIGRAM IN 1 MONTH
     Route: 041
     Dates: start: 20181106
  394. ZOLEDRONIC ACID [Concomitant]
     Active Substance: ZOLEDRONIC ACID
     Dosage: 4 MILLIGRAM, QD
     Route: 041
     Dates: start: 20181106
  395. ZOLEDRONIC ACID [Concomitant]
     Active Substance: ZOLEDRONIC ACID
     Dosage: UNK
  396. DIETARY SUPPLEMENT [Concomitant]
     Active Substance: DIETARY SUPPLEMENT
     Indication: Malnutrition
     Dosage: UNK
     Route: 048
     Dates: start: 20191117
  397. DIETARY SUPPLEMENT [Concomitant]
     Active Substance: DIETARY SUPPLEMENT
     Dosage: 90 ML, QD
     Route: 048
     Dates: start: 20190103, end: 20191111
  398. DIETARY SUPPLEMENT [Concomitant]
     Active Substance: DIETARY SUPPLEMENT
     Dosage: 1 CARTON, QD
     Route: 048
     Dates: start: 20190102, end: 20191029
  399. DIETARY SUPPLEMENT [Concomitant]
     Active Substance: DIETARY SUPPLEMENT
     Dosage: UNK UNK, QD
     Route: 048
     Dates: start: 20190103, end: 20191111
  400. DIETARY SUPPLEMENT [Concomitant]
     Active Substance: DIETARY SUPPLEMENT
     Dosage: UNK
     Route: 065
  401. DIETARY SUPPLEMENT [Concomitant]
     Active Substance: DIETARY SUPPLEMENT
     Dosage: UNK, QD
     Route: 048
     Dates: start: 20191117
  402. DIETARY SUPPLEMENT [Concomitant]
     Active Substance: DIETARY SUPPLEMENT
     Dosage: 90 MILLILITER
     Route: 048
     Dates: start: 20190103
  403. DIETARY SUPPLEMENT [Concomitant]
     Active Substance: DIETARY SUPPLEMENT
     Dosage: UNK
     Route: 065
  404. TRIPTORELIN [Concomitant]
     Active Substance: TRIPTORELIN
     Indication: Prostate cancer
     Dosage: 11.25 MG, Q12MO (11.25 MILLIGRAM, QID, 11.25 MG, QID)
     Route: 065
     Dates: start: 20190515
  405. TRIPTORELIN [Concomitant]
     Active Substance: TRIPTORELIN
     Dosage: 45 MG (1 DOSE YEARLY, 11.25 MG)
     Route: 065
     Dates: start: 20190515
  406. TRIPTORELIN [Concomitant]
     Active Substance: TRIPTORELIN
     Dosage: 11.25 MG, QID
     Route: 065
     Dates: start: 20190515
  407. TRIPTORELIN [Concomitant]
     Active Substance: TRIPTORELIN
     Dosage: 18.247 MG
     Route: 065
  408. TRIPTORELIN [Concomitant]
     Active Substance: TRIPTORELIN
     Dosage: 18.247 MG
     Route: 065
  409. CALCITONIN SALMON [Concomitant]
     Active Substance: CALCITONIN SALMON
     Indication: Malnutrition
     Dosage: UNK; ;
     Route: 065
  410. CALCITONIN SALMON [Concomitant]
     Active Substance: CALCITONIN SALMON
     Dosage: UNK; ;
     Route: 065
  411. CALCITONIN SALMON [Concomitant]
     Active Substance: CALCITONIN SALMON
     Dosage: UNK, QD
     Route: 048
     Dates: start: 20190103, end: 20191011
  412. CALCITONIN SALMON [Concomitant]
     Active Substance: CALCITONIN SALMON
     Dosage: UNK, QD
     Route: 048
     Dates: start: 20190103, end: 20191011
  413. CALCITONIN SALMON [Concomitant]
     Active Substance: CALCITONIN SALMON
     Dosage: UNK
     Route: 048
     Dates: start: 20191020, end: 20191029
  414. CALCITONIN SALMON [Concomitant]
     Active Substance: CALCITONIN SALMON
     Dosage: UNK
     Route: 065
  415. CALCITONIN SALMON [Concomitant]
     Active Substance: CALCITONIN SALMON
     Dosage: UNK, BID
     Route: 048
     Dates: start: 20190103, end: 20191011
  416. CALCITONIN SALMON [Concomitant]
     Active Substance: CALCITONIN SALMON
     Dosage: UNK
     Route: 065
  417. CALCITONIN SALMON [Concomitant]
     Active Substance: CALCITONIN SALMON
     Dosage: UNK
     Route: 065
  418. CALCITONIN SALMON [Concomitant]
     Active Substance: CALCITONIN SALMON
     Dosage: UNK; ;
     Route: 065
  419. CALCITONIN SALMON [Concomitant]
     Active Substance: CALCITONIN SALMON
     Dosage: UNK; ;
     Route: 065
  420. CHOLECALCIFEROL [Concomitant]
     Active Substance: CHOLECALCIFEROL
     Indication: Malnutrition
     Dosage: UNK UNK, BID;
     Route: 048
     Dates: start: 20190103, end: 20191011
  421. CHOLECALCIFEROL [Concomitant]
     Active Substance: CHOLECALCIFEROL
     Indication: Bone disorder
     Dosage: UNK UNK, BID;
     Route: 048
     Dates: start: 20190103, end: 20190211
  422. CHOLECALCIFEROL [Concomitant]
     Active Substance: CHOLECALCIFEROL
     Indication: Prophylaxis
     Dosage: UNK, QD;
     Route: 048
     Dates: start: 20191016, end: 20191029
  423. CHOLECALCIFEROL [Concomitant]
     Active Substance: CHOLECALCIFEROL
     Dosage: UNK UNK, BID;
     Route: 048
     Dates: start: 20190212, end: 20191015
  424. PENTAZOCINE LACTATE [Concomitant]
     Active Substance: PENTAZOCINE LACTATE
     Indication: Malnutrition
     Dosage: UNK UNK, QD;
     Route: 048
     Dates: start: 20191020, end: 20191029
  425. PENTAZOCINE LACTATE [Concomitant]
     Active Substance: PENTAZOCINE LACTATE
     Dosage: UNK UNK, BID;
     Route: 048
     Dates: start: 20191003, end: 20191011
  426. PENTAZOCINE LACTATE [Concomitant]
     Active Substance: PENTAZOCINE LACTATE
     Dosage: UNK, BID
     Route: 065
     Dates: start: 20191003, end: 20191011
  427. PENTAZOCINE LACTATE [Concomitant]
     Active Substance: PENTAZOCINE LACTATE
     Dosage: UNK
     Route: 065
     Dates: start: 20191020, end: 20191029
  428. PENTAZOCINE LACTATE [Concomitant]
     Active Substance: PENTAZOCINE LACTATE
     Dosage: UNK UNK, QD
     Route: 048
     Dates: start: 20191020, end: 20191029
  429. PENTAZOCINE LACTATE [Concomitant]
     Active Substance: PENTAZOCINE LACTATE
     Dosage: UNK
     Route: 065
     Dates: start: 20191003, end: 20191011
  430. PENTAZOCINE LACTATE [Concomitant]
     Active Substance: PENTAZOCINE LACTATE
     Dosage: UNK UNK, QD
     Route: 065
     Dates: start: 20191003, end: 20191011
  431. PENTAZOCINE LACTATE [Concomitant]
     Active Substance: PENTAZOCINE LACTATE
     Dosage: UNK UNK, QD
     Route: 065
     Dates: start: 20191020, end: 20191029
  432. ASPIRIN [Concomitant]
     Active Substance: ASPIRIN
     Indication: Prophylaxis
     Dosage: 75 MILLIGRAM
     Route: 048
  433. ASPIRIN [Concomitant]
     Active Substance: ASPIRIN
     Dosage: 75 MILLIGRAM
     Route: 048
  434. INFLUENZA VIRUS VACCINE [Concomitant]
     Active Substance: INFLUENZA VIRUS VACCINE
     Indication: Prophylaxis
     Dosage: 1 DF, QD (1 AMPULE)
     Route: 065
     Dates: start: 20191112, end: 20191112
  435. INFLUENZA VIRUS VACCINE [Concomitant]
     Active Substance: INFLUENZA VIRUS VACCINE
     Dosage: UNK
     Route: 065
  436. INFLUENZA VIRUS VACCINE [Concomitant]
     Active Substance: INFLUENZA VIRUS VACCINE
     Dosage: UNK
     Route: 065
  437. DIETARY SUPPLEMENT [Concomitant]
     Active Substance: DIETARY SUPPLEMENT
     Indication: Malnutrition
     Dosage: 1 OT, QD (1 CARTON)
     Dates: start: 20190102, end: 20191029
  438. DIETARY SUPPLEMENT [Concomitant]
     Active Substance: DIETARY SUPPLEMENT
     Dosage: UNK, QD
     Dates: start: 20190103, end: 20191111
  439. DIETARY SUPPLEMENT [Concomitant]
     Active Substance: DIETARY SUPPLEMENT
     Dosage: 1 CARTON, QD
     Route: 048
     Dates: start: 20190102, end: 20191029
  440. VITAMINS [Concomitant]
     Active Substance: VITAMINS
     Indication: Prophylaxis
     Dosage: UNK UNK, QD;
     Route: 048
     Dates: start: 20190104
  441. DECAPEPTYL-CR [Concomitant]
     Indication: Prostate cancer
     Dosage: 45 MILLIGRAM;
     Route: 065
     Dates: start: 20190515
  442. DECAPEPTYL-CR [Concomitant]
     Route: 065
  443. DECAPEPTYL-CR [Concomitant]
     Route: 065
  444. PANTOPRAZOLE SODIUM [Concomitant]
     Active Substance: PANTOPRAZOLE SODIUM
     Indication: Prophylaxis
     Dosage: 80 MILLIGRAM, QD
     Route: 048
     Dates: start: 20191016
  445. PANTOPRAZOLE SODIUM [Concomitant]
     Active Substance: PANTOPRAZOLE SODIUM
     Dosage: 40 MILLIGRAM, BID (80 MG, QD)
     Route: 048
     Dates: start: 20191016
  446. PANTOPRAZOLE SODIUM [Concomitant]
     Active Substance: PANTOPRAZOLE SODIUM
     Dosage: 20 MILLIGRAM, QD
     Route: 048
     Dates: start: 20190102, end: 20190102
  447. PANTOPRAZOLE SODIUM [Concomitant]
     Active Substance: PANTOPRAZOLE SODIUM
     Dosage: 20 MILLIGRAM, OD
     Route: 048
     Dates: start: 20190102, end: 20191015
  448. PANTOPRAZOLE SODIUM [Concomitant]
     Active Substance: PANTOPRAZOLE SODIUM
     Dosage: UNK UNK, QD
     Route: 048
     Dates: start: 20191020, end: 20191020
  449. PANTOPRAZOLE SODIUM [Concomitant]
     Active Substance: PANTOPRAZOLE SODIUM
     Dosage: 80 MILLIGRAM, QD
     Route: 048
     Dates: start: 20191016
  450. ZODORM [ZOLPIDEM TARTRATE] [Concomitant]
     Indication: Prophylaxis
     Dosage: 10 MILLIGRAM, UNK
     Route: 048
     Dates: start: 20180816, end: 20191029
  451. ZODORM [ZOLPIDEM TARTRATE] [Concomitant]
     Dosage: 10 MILLIGRAM, UNK
     Route: 048
     Dates: start: 20180819, end: 20191029
  452. BEMIN [THIAMINE HYDROCHLORIDE] [Concomitant]
     Indication: Product used for unknown indication
     Dosage: 300 MILLIGRAM
     Route: 048
     Dates: start: 20190105, end: 20190112
  453. MAGLAX [MAGNESIUM OXIDE] [Concomitant]
     Indication: Malnutrition
     Route: 048
     Dates: start: 20190103, end: 20191011
  454. MAGNESIUM [Concomitant]
     Active Substance: MAGNESIUM
     Indication: Product used for unknown indication
     Dosage: UNK
     Route: 048
     Dates: start: 20190105, end: 20190112
  455. XYLOCAINA [LIDOCAINE] [Concomitant]
     Indication: Tongue coated
     Dosage: 10 MILLILITER, TID
     Route: 048
     Dates: start: 20191116, end: 20191220
  456. XYLOCAINA [LIDOCAINE] [Concomitant]
     Dosage: 30 MILLILITER
     Route: 048
     Dates: start: 20191116, end: 20191220
  457. XYLOCAINA [LIDOCAINE] [Concomitant]
     Dosage: UNK, OD
     Route: 048
     Dates: start: 20190103, end: 20191011
  458. XYLOCAINA [LIDOCAINE] [Concomitant]
     Dosage: 90 ML, QD, (30 MILLILITER, TID)
     Route: 048
     Dates: start: 20191116, end: 20191220
  459. CORVITOL [METOPROLOL] [Concomitant]
     Indication: Hypertension
     Dosage: 25 MILLIGRAM, BID (1 DOSE 12 HOURS)
     Route: 048
  460. CORVITOL [METOPROLOL] [Concomitant]
     Dosage: 50 MILLIGRAM, QD
     Route: 048
  461. CORVITOL [METOPROLOL] [Concomitant]
     Dosage: 50 MILLIGRAM, QD
     Route: 048
  462. CORVITOL [METOPROLOL] [Concomitant]
     Dosage: 50 MILLIGRAM, QD
     Route: 048
  463. CORVITOL [METOPROLOL] [Concomitant]
     Dosage: 25 MILLIGRAM
     Route: 048
  464. CORVITOL [METOPROLOL] [Concomitant]
     Dosage: 50 MILLIGRAM, QD
     Route: 065
  465. CORVITOL [METOPROLOL] [Concomitant]
     Dosage: 50 MILLIGRAM, BID
     Route: 048
  466. CORVITOL [METOPROLOL] [Concomitant]
     Dosage: 50 MILLIGRAM, QD
     Route: 065
  467. CORVITOL [METOPROLOL] [Concomitant]
     Dosage: 50 MILLIGRAM, QD
     Route: 048
  468. CORVITOL [METOPROLOL] [Concomitant]
     Dosage: 50 MILLIGRAM, QD
     Route: 048
  469. CORVITOL [METOPROLOL] [Concomitant]
     Dosage: 25 MILLIGRAM
     Route: 048
  470. CORVITOL [METOPROLOL] [Concomitant]
     Dosage: 25 MILLIGRAM, BID (1 DOSE 12 HOURS)
     Route: 048
  471. CORVITOL [METOPROLOL] [Concomitant]
     Dosage: 50 MILLIGRAM, QD
     Route: 048
  472. CORVITOL [METOPROLOL] [Concomitant]
     Dosage: 25 MILLIGRAM
     Route: 048
  473. CORVITOL [METOPROLOL] [Concomitant]
     Dosage: 50 MILLIGRAM, QD
     Route: 048
  474. CORVITOL [METOPROLOL] [Concomitant]
     Dosage: 50 MILLIGRAM, QD
     Route: 048
  475. CORVITOL [METOPROLOL] [Concomitant]
     Dosage: 25 MG
     Route: 048
  476. CORVITOL [METOPROLOL] [Concomitant]
     Dosage: 25 MG, BID
     Route: 048
  477. CORVITOL [METOPROLOL] [Concomitant]
     Dosage: 50 MG, QD
     Route: 048
  478. CORVITOL [METOPROLOL] [Concomitant]
     Dosage: 25 MG, BID (25 MG, 1 DOSE 12 HOURS)
     Route: 048
  479. CORVITOL [METOPROLOL] [Concomitant]
     Dosage: 50 MG, QD
     Route: 048
  480. CORVITOL [METOPROLOL] [Concomitant]
     Dosage: 50 MG, QD
     Route: 048
  481. CORVITOL [METOPROLOL] [Concomitant]
     Dosage: 25 MG (1 DOSE, 12 HRS)
     Route: 048
  482. CORVITOL [METOPROLOL] [Concomitant]
     Dosage: 50 MILLIGRAM
     Route: 048
  483. CORVITOL [METOPROLOL] [Concomitant]
     Dosage: 50 MG, QD
     Route: 048
  484. CORVITOL [METOPROLOL] [Concomitant]
     Dosage: 25 MG (1 DOSE, 12 HRS)
     Route: 048
  485. CORVITOL [METOPROLOL] [Concomitant]
     Dosage: 25 MILLIGRAM, BID
     Route: 048
  486. CORVITOL [METOPROLOL] [Concomitant]
     Dosage: 50 MILLIGRAM, QD
     Route: 048
  487. CORVITOL [METOPROLOL] [Concomitant]
     Dosage: 50 MILLIGRAM, QD
     Route: 048
  488. CORVITOL [METOPROLOL] [Concomitant]
     Dosage: 50 MILLIGRAM, QD
     Route: 048
  489. CORVITOL [METOPROLOL] [Concomitant]
     Dosage: 25 MILLIGRAM, BID
     Route: 048
  490. CORVITOL [METOPROLOL] [Concomitant]
     Dosage: 50 MILLIGRAM, QD
     Route: 048
  491. CORVITOL [METOPROLOL] [Concomitant]
     Dosage: 25 MILLIGRAM, BID
     Route: 048
  492. CORVITOL [METOPROLOL] [Concomitant]
     Dosage: 25 MILLIGRAM, BID
     Route: 048
  493. CORVITOL [METOPROLOL] [Concomitant]
     Dosage: 50 MG, QD
     Route: 048
  494. CORVITOL [METOPROLOL] [Concomitant]
     Dosage: 25 MG
     Route: 048
  495. CORVITOL [METOPROLOL] [Concomitant]
     Dosage: 25 MG, Q12H
     Route: 048
  496. CORVITOL [METOPROLOL] [Concomitant]
     Dosage: 50 MG, QD, (25 MG, BID)
     Route: 048
  497. CORVITOL [METOPROLOL] [Concomitant]
     Dosage: 50 MG, QD
     Route: 048
  498. CORVITOL [METOPROLOL] [Concomitant]
     Dosage: 50 MG, QD
     Route: 048
  499. CORVITOL [METOPROLOL] [Concomitant]
     Dosage: 50 MG, QD
     Route: 048
  500. CORVITOL [METOPROLOL] [Concomitant]
     Dosage: 50 MG, QD
     Route: 048
  501. CORVITOL [METOPROLOL] [Concomitant]
     Dosage: 25 MG, BID
     Route: 048
  502. CORVITOL [METOPROLOL] [Concomitant]
     Dosage: 25 MG, BID (25 MG, 1 DOSE 12 HOURS)
     Route: 048
  503. CORVITOL [METOPROLOL] [Concomitant]
     Dosage: 50 MG, QD
     Route: 048
  504. CORVITOL [METOPROLOL] [Concomitant]
     Dosage: 25 MG
     Route: 048
  505. CORVITOL [METOPROLOL] [Concomitant]
     Route: 065
  506. CORVITOL [METOPROLOL] [Concomitant]
     Route: 065
  507. CORVITOL [METOPROLOL] [Concomitant]
     Dosage: 50 MG, QD
     Route: 048
  508. CORVITOL [METOPROLOL] [Concomitant]
     Dosage: 50 MG, QD, (25 MG, BID)
     Route: 048
  509. CORVITOL [METOPROLOL] [Concomitant]
     Dosage: 25 MG
     Route: 048
  510. CORVITOL [METOPROLOL] [Concomitant]
     Dosage: 50 MG, QD
     Route: 048
  511. CORVITOL [METOPROLOL] [Concomitant]
     Dosage: 25 MG, Q12H
     Route: 048
  512. CORVITOL [METOPROLOL] [Concomitant]
     Dosage: 50 MG, QD
     Route: 048
  513. CORVITOL [METOPROLOL] [Concomitant]
     Dosage: 50 MG, QD
     Route: 048
  514. CORVITOL [METOPROLOL] [Concomitant]
     Dosage: 50 MG, QD
     Route: 048
  515. CORVITOL [METOPROLOL] [Concomitant]
     Dosage: 50 MG, QD
     Route: 048
  516. CORVITOL [METOPROLOL] [Concomitant]
     Dosage: 25 MG, BID
     Route: 048
  517. CORVITOL [METOPROLOL] [Concomitant]
     Dosage: 25 MG, BID (25 MG, 1 DOSE 12 HOURS)
     Route: 048
  518. CORVITOL [METOPROLOL] [Concomitant]
     Dosage: 25 MG
     Route: 048
  519. CORVITOL [METOPROLOL] [Concomitant]
     Dosage: 50 MILLIGRAM, QD
     Route: 048
  520. CORVITOL [METOPROLOL] [Concomitant]
     Dosage: 50 MILLIGRAM, QD
     Route: 048
  521. CORVITOL [METOPROLOL] [Concomitant]
     Dosage: 50 MILLIGRAM, QD
     Route: 065
  522. CORVITOL [METOPROLOL] [Concomitant]
     Dosage: 25 MILLIGRAM, BID (1 DOSE 12 HOURS)
     Route: 048
  523. CORVITOL [METOPROLOL] [Concomitant]
     Dosage: 50 MILLIGRAM, QD
     Route: 048
  524. CORVITOL [METOPROLOL] [Concomitant]
     Dosage: 25 MILLIGRAM
     Route: 048
  525. CORVITOL [METOPROLOL] [Concomitant]
     Dosage: 50 MG, QD
     Route: 048
  526. CORVITOL [METOPROLOL] [Concomitant]
     Dosage: 25 MG
     Route: 048
  527. CORVITOL [METOPROLOL] [Concomitant]
     Dosage: 25 MG, BID (25 MG, 1 DOSE 12 HOURS)
     Route: 048
  528. CORVITOL [METOPROLOL] [Concomitant]
     Dosage: 50 MG, QD
     Route: 048
  529. CORVITOL [METOPROLOL] [Concomitant]
     Dosage: 50 MG, QD
     Route: 048
  530. CORVITOL [METOPROLOL] [Concomitant]
     Dosage: 25 MG, BID
     Route: 048
  531. CORVITOL [METOPROLOL] [Concomitant]
     Dosage: 50 MG, QD
     Route: 048
  532. CORVITOL [METOPROLOL] [Concomitant]
     Dosage: 50 MG, QD
     Route: 048
  533. CORVITOL [METOPROLOL] [Concomitant]
     Dosage: 50 MG, QD
     Route: 048
  534. CORVITOL [METOPROLOL] [Concomitant]
     Dosage: 25 MG (1 DOSE, 12 HRS)
     Route: 048
  535. CORVITOL [METOPROLOL] [Concomitant]
     Dosage: 25 MILLIGRAM
     Route: 048
  536. CORVITOL [METOPROLOL] [Concomitant]
     Dosage: 25 MILLIGRAM, BID (1 DOSE 12 HOURS)
     Route: 048
  537. CORVITOL [METOPROLOL] [Concomitant]
     Dosage: 50 MILLIGRAM, QD
     Route: 048
  538. CORVITOL [METOPROLOL] [Concomitant]
     Dosage: 50 MILLIGRAM, QD
     Route: 048
  539. CORVITOL [METOPROLOL] [Concomitant]
     Dosage: 50 MILLIGRAM, QD
     Route: 065
  540. CORVITOL [METOPROLOL] [Concomitant]
     Dosage: 50 MILLIGRAM, QD
     Route: 048
  541. CORVITOL [METOPROLOL] [Concomitant]
     Dosage: 25 MG, Q12H
     Route: 048
  542. CORVITOL [METOPROLOL] [Concomitant]
     Dosage: 50 MG, QD, (25 MG, BID)
     Route: 048
  543. CORVITOL [METOPROLOL] [Concomitant]
     Dosage: 50 MG, QD
     Route: 048
  544. CORVITOL [METOPROLOL] [Concomitant]
     Dosage: 25 MG
     Route: 048
  545. CORVITOL [METOPROLOL] [Concomitant]
     Dosage: 50 MG, QD
     Route: 048
  546. CORVITOL [METOPROLOL] [Concomitant]
     Dosage: 50 MG, QD
     Route: 048
  547. CORVITOL [METOPROLOL] [Concomitant]
     Dosage: 25 MG, Q12H
     Route: 048
  548. CORVITOL [METOPROLOL] [Concomitant]
     Dosage: 25 MG
     Route: 048
  549. CORVITOL [METOPROLOL] [Concomitant]
     Dosage: 50 MG, QD
     Route: 048
  550. CORVITOL [METOPROLOL] [Concomitant]
     Dosage: 50 MG, QD, (25 MG, BID)
     Route: 048
  551. CORVITOL [METOPROLOL] [Concomitant]
     Dosage: 50 MG, QD
     Route: 048
  552. CORVITOL [METOPROLOL] [Concomitant]
     Dosage: 50 MG, QD
     Route: 048
  553. CORVITOL [METOPROLOL] [Concomitant]
     Dosage: 50 MILLIGRAM, QD
     Route: 048
  554. CORVITOL [METOPROLOL] [Concomitant]
     Dosage: 50 MILLIGRAM, QD
     Route: 065
  555. CORVITOL [METOPROLOL] [Concomitant]
     Dosage: 25 MILLIGRAM, BID (1 DOSE 12 HOURS)
     Route: 048
  556. CORVITOL [METOPROLOL] [Concomitant]
     Dosage: 50 MILLIGRAM, QD
     Route: 048
  557. CORVITOL [METOPROLOL] [Concomitant]
     Dosage: 25 MILLIGRAM
     Route: 048
  558. CORVITOL [METOPROLOL] [Concomitant]
     Dosage: 50 MILLIGRAM, QD
     Route: 048
  559. CORVITOL [METOPROLOL] [Concomitant]
     Dosage: 25 MILLIGRAM
     Route: 048
  560. CORVITOL [METOPROLOL] [Concomitant]
     Dosage: 50 MILLIGRAM, QD
     Route: 048
  561. CORVITOL [METOPROLOL] [Concomitant]
     Dosage: 50 MILLIGRAM, QD
     Route: 065
  562. CORVITOL [METOPROLOL] [Concomitant]
     Dosage: 50 MILLIGRAM, BID
     Route: 048
  563. CORVITOL [METOPROLOL] [Concomitant]
     Dosage: 25 MILLIGRAM
     Route: 048
  564. CORVITOL [METOPROLOL] [Concomitant]
     Dosage: 50 MILLIGRAM, QD
     Route: 048
  565. CORVITOL [METOPROLOL] [Concomitant]
     Dosage: 50 MILLIGRAM, QD
     Route: 048
  566. CORVITOL [METOPROLOL] [Concomitant]
     Dosage: 25 MILLIGRAM
     Route: 048
  567. CORVITOL [METOPROLOL] [Concomitant]
     Dosage: 25 MILLIGRAM, BID (1 DOSE 12 HOURS)
     Route: 048
  568. CORVITOL [METOPROLOL] [Concomitant]
     Dosage: 50 MILLIGRAM, QD
  569. CORVITOL [METOPROLOL] [Concomitant]
     Dosage: 50 MILLIGRAM, QD
  570. CORVITOL [METOPROLOL] [Concomitant]
     Dosage: 25 MILLIGRAM, BID
  571. CORVITOL [METOPROLOL] [Concomitant]
     Dosage: 25 MILLIGRAM, BID
  572. CORVITOL [METOPROLOL] [Concomitant]
     Dosage: 50 MILLIGRAM, QD
  573. CORVITOL [METOPROLOL] [Concomitant]
     Dosage: 25 MILLIGRAM, BID
  574. CENTRUM PERFORMANCE [GINKGO BILOBA LEAF EXTRACT;MINERALS NOS;PANAX GIN [Concomitant]
     Indication: Prophylaxis
     Dosage: UNK
     Route: 065
  575. CENTRUM PERFORMANCE [GINKGO BILOBA LEAF EXTRACT;MINERALS NOS;PANAX GIN [Concomitant]
     Dosage: 1 DOSAGE FORM, QD
     Route: 048
     Dates: start: 20190104
  576. CENTRUM PERFORMANCE [GINKGO BILOBA LEAF EXTRACT;MINERALS NOS;PANAX GIN [Concomitant]
     Dosage: UNK UNK, QD
     Route: 048
     Dates: start: 20190104
  577. HYPOTEN [AMLODIPINE] [Concomitant]
     Indication: Hypertension
     Dosage: 10 MILLIGRAM, QD
     Route: 048
  578. HYPOTEN [AMLODIPINE] [Concomitant]
     Dosage: 10 MILLIGRAM, QD
     Route: 048
     Dates: end: 20191204
  579. HYPOTEN [AMLODIPINE] [Concomitant]
     Dosage: 10 MILLIGRAM, QD
     Route: 048
     Dates: end: 20191204
  580. HYPOTEN [AMLODIPINE] [Concomitant]
     Dosage: 10 MILLIGRAM, QD
     Route: 048
  581. HYPOTEN [AMLODIPINE] [Concomitant]
     Dosage: 10 MILLIGRAM, QD
     Route: 048
     Dates: start: 20191204
  582. HYPOTEN [AMLODIPINE] [Concomitant]
     Dosage: 10 MILLIGRAM, OD
     Route: 048
     Dates: start: 20191204, end: 20191204
  583. DECAPEPTYL (ACETATE) [Concomitant]
     Active Substance: TRIPTORELIN ACETATE
     Indication: Prostate cancer
     Dosage: UNK
     Route: 065
  584. DECAPEPTYL (ACETATE) [Concomitant]
     Active Substance: TRIPTORELIN ACETATE
     Dosage: 11.25 MILLIGRAM, Q12MO
     Route: 065
     Dates: start: 20190515
  585. DECAPEPTYL (ACETATE) [Concomitant]
     Active Substance: TRIPTORELIN ACETATE
     Dosage: 11.25 MILLIGRAM, QID
     Route: 065
     Dates: start: 20190515
  586. DECAPEPTYL (ACETATE) [Concomitant]
     Active Substance: TRIPTORELIN ACETATE
     Dosage: 18.247 MILLIGRAM
     Route: 065
  587. DECAPEPTYL (ACETATE) [Concomitant]
     Active Substance: TRIPTORELIN ACETATE
     Dosage: 45 MILLIGRAM, QMO (1 DOSE YEARLY, 11.25 MG)
     Route: 065
     Dates: start: 20190515
  588. DECAPEPTYL (ACETATE) [Concomitant]
     Active Substance: TRIPTORELIN ACETATE
     Dosage: UNK
     Route: 065
  589. DECAPEPTYL (ACETATE) [Concomitant]
     Active Substance: TRIPTORELIN ACETATE
     Dosage: 18.247 MILLIGRAM
     Route: 065
  590. DECAPEPTYL (ACETATE) [Concomitant]
     Active Substance: TRIPTORELIN ACETATE
     Dosage: 18.247 MILLIGRAM
     Route: 065
  591. DECAPEPTYL (ACETATE) [Concomitant]
     Active Substance: TRIPTORELIN ACETATE
     Dosage: UNK
     Route: 065
  592. HEXAVIT [VITAMINS NOS] [Concomitant]
     Indication: Prophylaxis
     Dosage: UNK UNK, QD
     Route: 048
     Dates: start: 20190104
  593. HEXAVIT [VITAMINS NOS] [Concomitant]
     Dosage: UNK UNK, QD
     Route: 048
     Dates: start: 20190103, end: 20191111
  594. HEXAVIT [VITAMINS NOS] [Concomitant]
     Dosage: UNK UNK, QD
     Route: 065
     Dates: start: 20190102, end: 20190129
  595. DIPHENHYDRAMINE;RETINOL;TRICLOCARBAN;VITAMIN D NOS;ZINC [Concomitant]
     Indication: Malnutrition
     Dosage: UNK, QD
     Route: 048
     Dates: start: 20190104
  596. DIPHENHYDRAMINE;RETINOL;TRICLOCARBAN;VITAMIN D NOS;ZINC [Concomitant]
     Indication: Prophylaxis
     Dosage: UNK UNK, BID
     Route: 065
     Dates: start: 20190103, end: 20191011
  597. DIPHENHYDRAMINE;RETINOL;TRICLOCARBAN;VITAMIN D NOS;ZINC [Concomitant]
     Dosage: UNK, QD
     Route: 048
     Dates: start: 20190104
  598. DIPHENHYDRAMINE;RETINOL;TRICLOCARBAN;VITAMIN D NOS;ZINC [Concomitant]
     Dosage: UNK, BID
     Route: 048
     Dates: start: 20190102, end: 20191029
  599. DIPHENHYDRAMINE;RETINOL;TRICLOCARBAN;VITAMIN D NOS;ZINC [Concomitant]
     Dosage: UNK, QD
     Route: 048
     Dates: start: 20190102, end: 20191029
  600. DIPHENHYDRAMINE;RETINOL;TRICLOCARBAN;VITAMIN D NOS;ZINC [Concomitant]
     Dosage: UNK UNK, BID
     Route: 048
     Dates: start: 20190103
  601. DIPHENHYDRAMINE;RETINOL;TRICLOCARBAN;VITAMIN D NOS;ZINC [Concomitant]
     Dosage: UNK UNK, QD
     Route: 065
     Dates: start: 20190102, end: 20190129
  602. DIPHENHYDRAMINE;RETINOL;TRICLOCARBAN;VITAMIN D NOS;ZINC [Concomitant]
     Dosage: UNK
     Route: 065
     Dates: start: 20190103, end: 20191011
  603. DIPHENHYDRAMINE;RETINOL;TRICLOCARBAN;VITAMIN D NOS;ZINC [Concomitant]
     Dosage: UNK UNK, BID
     Route: 048
     Dates: start: 20190103, end: 20191011
  604. MAGNOZONE [MAGNESIUM OXIDE] [Concomitant]
     Indication: Malnutrition
     Dosage: UNK UNK, BID
     Route: 048
     Dates: start: 20190103, end: 20191011
  605. MAGNOZONE [MAGNESIUM OXIDE] [Concomitant]
     Dosage: UNK
     Route: 065
  606. MAGNOZONE [MAGNESIUM OXIDE] [Concomitant]
     Dosage: UNK, UNK, QD
     Route: 048
     Dates: start: 20190103, end: 20191011
  607. MAGNOZONE [MAGNESIUM OXIDE] [Concomitant]
     Dosage: UNK
     Route: 065
  608. MAGNOZONE [MAGNESIUM OXIDE] [Concomitant]
     Dosage: UNK
     Route: 065
  609. MAGNOZONE [MAGNESIUM OXIDE] [Concomitant]
     Dosage: UNK
     Route: 065
  610. MAGNOZONE [MAGNESIUM OXIDE] [Concomitant]
     Dosage: UNK
     Route: 065
  611. MAGNOZONE [MAGNESIUM OXIDE] [Concomitant]
     Dosage: UNK
     Route: 065
  612. MAGNOZONE [MAGNESIUM OXIDE] [Concomitant]
     Dosage: UNK
     Route: 065
  613. MAGNOZONE [MAGNESIUM OXIDE] [Concomitant]
     Dosage: UNK
     Route: 065
  614. MAGNOZONE [MAGNESIUM OXIDE] [Concomitant]
     Dosage: UNK
     Route: 065
  615. MAGNOZONE [MAGNESIUM OXIDE] [Concomitant]
     Dosage: UNK
     Route: 065
  616. MAGNOZONE [MAGNESIUM OXIDE] [Concomitant]
     Dosage: UNK
     Route: 048
  617. MAGNOZONE [MAGNESIUM OXIDE] [Concomitant]
     Dosage: UNK
     Route: 048
  618. MAGNOZONE [MAGNESIUM OXIDE] [Concomitant]
     Dosage: UNK
     Route: 065
  619. MAGNOZONE [MAGNESIUM OXIDE] [Concomitant]
     Dosage: UNK, UNK, QD
     Route: 048
     Dates: start: 20190103, end: 20191011
  620. MAGNOZONE [MAGNESIUM OXIDE] [Concomitant]
     Dosage: UNK
     Route: 065
  621. PRIMODIL [AMLODIPINE] [Concomitant]
     Indication: Hypertension
     Dosage: 10 MILLIGRAM, QD
     Route: 048
     Dates: start: 20191204
  622. PRIMODIL [AMLODIPINE] [Concomitant]
     Dosage: 10 MILLIGRAM, QD
     Route: 048
  623. PRIMODIL [AMLODIPINE] [Concomitant]
     Dosage: 10 MILLIGRAM, OD
     Route: 048
     Dates: start: 20191204, end: 20191204
  624. PRIMODIL [AMLODIPINE] [Concomitant]
     Dosage: 10 MILLIGRAM, QD
     Route: 048
  625. PRIMODIL [AMLODIPINE] [Concomitant]
     Dosage: 10 MILLIGRAM, QD
     Route: 048
     Dates: end: 20191204
  626. PRIMODIL [AMLODIPINE] [Concomitant]
     Dosage: 10 MILLIGRAM, QD
     Route: 048
     Dates: start: 20191204
  627. PRIMODIL [AMLODIPINE] [Concomitant]
     Dosage: 10 MILLIGRAM, QD
     Route: 048
  628. PRIMODIL [AMLODIPINE] [Concomitant]
     Dosage: 10 MG, QD
     Route: 048
  629. PRIMODIL [AMLODIPINE] [Concomitant]
     Dosage: 10 MG, QD
     Route: 048
  630. PRIMODIL [AMLODIPINE] [Concomitant]
     Dosage: 10 MILLIGRAM, QD
     Route: 048
  631. PRIMODIL [AMLODIPINE] [Concomitant]
     Dosage: 10 MILLIGRAM, QD
     Route: 048
  632. PRIMODIL [AMLODIPINE] [Concomitant]
     Dosage: 10 MG, QD
     Route: 048
  633. PRIMODIL [AMLODIPINE] [Concomitant]
     Dosage: 10 MG, QD
     Route: 048
  634. PRIMODIL [AMLODIPINE] [Concomitant]
     Route: 065
  635. PRIMODIL [AMLODIPINE] [Concomitant]
     Route: 065
  636. PRIMODIL [AMLODIPINE] [Concomitant]
     Dosage: 10 MG, QD
     Route: 048
  637. PRIMODIL [AMLODIPINE] [Concomitant]
     Dosage: 10 MG, QD
     Route: 048
  638. PRIMODIL [AMLODIPINE] [Concomitant]
     Dosage: 10 MILLIGRAM, QD
     Route: 048
  639. PRIMODIL [AMLODIPINE] [Concomitant]
     Dosage: 10 MILLIGRAM, QD
     Route: 048
  640. PRIMODIL [AMLODIPINE] [Concomitant]
     Dosage: 10 MG, QD
     Route: 048
  641. PRIMODIL [AMLODIPINE] [Concomitant]
     Dosage: 10 MG, QD
     Route: 048
  642. PRIMODIL [AMLODIPINE] [Concomitant]
     Dosage: 10 MILLIGRAM, QD
     Route: 048
  643. PRIMODIL [AMLODIPINE] [Concomitant]
     Dosage: 10 MILLIGRAM, QD
     Route: 048
  644. PRIMODIL [AMLODIPINE] [Concomitant]
     Dosage: 10 MG, QD
     Route: 048
  645. PRIMODIL [AMLODIPINE] [Concomitant]
     Dosage: 10 MG, QD
     Route: 048
  646. PRIMODIL [AMLODIPINE] [Concomitant]
     Dosage: 10 MILLIGRAM, QD
     Route: 048
  647. PRIMODIL [AMLODIPINE] [Concomitant]
     Dosage: 10 MILLIGRAM, QD
     Route: 048
  648. PRIMODIL [AMLODIPINE] [Concomitant]
     Dosage: 10 MILLIGRAM, QD
     Route: 048
     Dates: end: 20191204
  649. PRIMODIL [AMLODIPINE] [Concomitant]
     Dosage: 10 MILLIGRAM, QD
     Route: 048
  650. PRIMODIL [AMLODIPINE] [Concomitant]
     Dosage: 10 MILLIGRAM, QD
     Route: 048
  651. SODIUM FLUORIDE [Concomitant]
     Active Substance: SODIUM FLUORIDE
     Indication: Malnutrition
     Dosage: 90 MILLILITER
     Route: 048
     Dates: start: 20190103
  652. altraplen protein [Concomitant]
     Indication: Malnutrition
     Dosage: 1 CARTON
     Route: 048
     Dates: start: 20191117
  653. DIETARY SUPPLEMENT [Concomitant]
     Active Substance: DIETARY SUPPLEMENT
     Indication: Malnutrition
     Dosage: 90 ML, QD
     Route: 048
     Dates: start: 20190103
  654. DIETARY SUPPLEMENT [Concomitant]
     Active Substance: DIETARY SUPPLEMENT
     Dosage: UNK UNK, QD
     Route: 048
     Dates: start: 20190103, end: 20191111
  655. DIETARY SUPPLEMENT [Concomitant]
     Active Substance: DIETARY SUPPLEMENT
     Dosage: 1 CARTON, QD
     Route: 048
     Dates: start: 20190102, end: 20191029
  656. FORTICAL [CALCIUM CARBONATE;COLECALCIFEROL;LYSINE HYDROCHLORIDE] [Concomitant]
     Indication: Product used for unknown indication
     Dosage: UNK
     Route: 065
  657. HYPOTEN [AMLODIPINE] [Concomitant]
     Indication: Hypertension
     Dosage: 10 MILLIGRAM, QD
  658. HYPOTEN [AMLODIPINE] [Concomitant]
     Dosage: 10 MILLIGRAM
  659. HYPOTEN [AMLODIPINE] [Concomitant]
     Dosage: 10 MILLIGRAM, QD
     Dates: start: 20191204, end: 20191204
  660. SODIUM FLUORIDE [Concomitant]
     Active Substance: SODIUM FLUORIDE
     Indication: Malnutrition
     Dosage: 90 MILLILITER, QD
     Dates: start: 20190103
  661. XYLOCAINA [LIDOCAINE] [Concomitant]
     Indication: Tongue coated
     Dosage: 30 MILLILITER, QD
     Dates: start: 20191116
  662. XYLOCAINA [LIDOCAINE] [Concomitant]
     Indication: Malnutrition
     Dosage: UNK, QD
     Dates: start: 20190103, end: 20191011
  663. XYLOCAINA [LIDOCAINE] [Concomitant]
     Dosage: 90 MILLILITER, QD
     Dates: start: 20191116, end: 20191220
  664. Altraplen compact [Concomitant]
     Indication: Malnutrition
     Dosage: UNK
     Dates: start: 20191117
  665. DOPPELHERZ AKTIV VITAMIN D [VITAMIN D NOS] [Concomitant]
     Indication: Malnutrition
     Dosage: UNK, QD
     Dates: start: 20190104
  666. DOPPELHERZ AKTIV VITAMIN D [VITAMIN D NOS] [Concomitant]
     Dosage: UNK, BID
     Dates: start: 20190102, end: 20191029
  667. DOPPELHERZ AKTIV VITAMIN D [VITAMIN D NOS] [Concomitant]
     Dosage: UNK, QD
     Dates: start: 20190103, end: 20191111
  668. DOPPELHERZ AKTIV VITAMIN D [VITAMIN D NOS] [Concomitant]
     Dosage: UNK, QD
     Dates: start: 20190102, end: 20190129
  669. DOPPELHERZ AKTIV VITAMIN D [VITAMIN D NOS] [Concomitant]
     Dosage: UNK, BID
     Dates: start: 20190102, end: 20191029
  670. DOPPELHERZ AKTIV VITAMIN D [VITAMIN D NOS] [Concomitant]
     Dosage: UNK, BID
     Dates: start: 20190103, end: 20191011
  671. DOPPELHERZ AKTIV VITAMIN D [VITAMIN D NOS] [Concomitant]
     Dosage: UNK, BID
     Dates: start: 20190104
  672. CHOLECALCIFEROL [Concomitant]
     Active Substance: CHOLECALCIFEROL
     Indication: Product used for unknown indication
     Dosage: UNK
     Route: 065
  673. LEVEMIR [Concomitant]
     Active Substance: INSULIN DETEMIR
     Indication: Product used for unknown indication
     Dosage: UNK
     Route: 065
  674. LEVEMIR [Concomitant]
     Active Substance: INSULIN DETEMIR
     Dosage: UNK
     Route: 065
  675. METHOTREXATE SODIUM [Concomitant]
     Active Substance: METHOTREXATE SODIUM
     Indication: Blood pressure abnormal
     Dosage: UNK
     Route: 065
  676. METHOTREXATE SODIUM [Concomitant]
     Active Substance: METHOTREXATE SODIUM
     Dosage: UNK
     Route: 065
  677. NOVORAPID [Concomitant]
     Active Substance: INSULIN ASPART
     Indication: Product used for unknown indication
     Dosage: UNK
     Route: 065
  678. NOVORAPID [Concomitant]
     Active Substance: INSULIN ASPART
     Dosage: UNK
     Route: 065
  679. METOCLOPRAMIDE HYDROCHLORIDE [Concomitant]
     Active Substance: METOCLOPRAMIDE HYDROCHLORIDE
     Indication: Product used for unknown indication
     Route: 065
  680. METOCLOPRAMIDE HYDROCHLORIDE [Concomitant]
     Active Substance: METOCLOPRAMIDE HYDROCHLORIDE
     Route: 065

REACTIONS (12)
  - Anaemia [Recovered/Resolved]
  - Respiratory tract infection viral [Fatal]
  - Neutropenia [Recovered/Resolved]
  - Respiratory tract infection [Fatal]
  - COVID-19 [Fatal]
  - Pulmonary embolism [Fatal]
  - Thrombocytopenia [Fatal]
  - Respiratory tract infection bacterial [Fatal]
  - Full blood count abnormal [Unknown]
  - Malaise [Unknown]
  - Product dose omission issue [Unknown]
  - Intentional product use issue [Unknown]

NARRATIVE: CASE EVENT DATE: 20181008
